FAERS Safety Report 19694377 (Version 28)
Quarter: 2023Q4

REPORT INFORMATION
  Report Type: Spontaneous
  Country: CA (occurrence: CA)
  Receive Date: 20210813
  Receipt Date: 20231013
  Transmission Date: 20240109
  Serious: Yes (Death, Life-Threatening, Hospitalization, Disabling, Other)
  Sender: FDA-Public Use
  Company Number: CA-009507513-2107CAN007895

PATIENT
  Age: 44 Year
  Sex: Female
  Weight: 97 kg

DRUGS (509)
  1. FOSAMAX [Suspect]
     Active Substance: ALENDRONATE SODIUM
     Indication: Rheumatoid arthritis
     Dosage: UNK
     Route: 048
  2. FOSAMAX [Suspect]
     Active Substance: ALENDRONATE SODIUM
     Indication: Product used for unknown indication
     Dosage: UNK,DOSAGE FORM NOT SPECIFIED
     Route: 048
  3. FOSAMAX [Suspect]
     Active Substance: ALENDRONATE SODIUM
     Dosage: UNK,DOSAGE FORM NOT SPECIFIED
     Route: 048
  4. FOSAMAX [Suspect]
     Active Substance: ALENDRONATE SODIUM
     Dosage: UNK,DOSAGE FORM:NOT SPECIFIED
     Route: 065
  5. FOSAMAX [Suspect]
     Active Substance: ALENDRONATE SODIUM
     Dosage: UNK
     Route: 065
  6. FOSAMAX [Suspect]
     Active Substance: ALENDRONATE SODIUM
     Dosage: 5 MILLIGRAM, Q12H
     Route: 048
  7. FOSAMAX [Suspect]
     Active Substance: ALENDRONATE SODIUM
     Dosage: UNK
     Route: 048
  8. FOSAMAX [Suspect]
     Active Substance: ALENDRONATE SODIUM
     Dosage: UNK
     Route: 048
  9. EMEND [Suspect]
     Active Substance: APREPITANT
     Indication: Product used for unknown indication
     Dosage: UNK, ROUTE : INTRAVENOUS (NOT OTHERWISE SPECIFIED)
     Route: 042
  10. EMEND [Suspect]
     Active Substance: APREPITANT
     Dosage: UNK
     Route: 065
  11. REMICADE [Suspect]
     Active Substance: INFLIXIMAB
     Indication: Rheumatoid arthritis
     Dosage: UNK, DOSAGE FORM: POWDER FOR SOLUTION INTRAVENOUS ROUTE: (INTRAVENOUS (NOT OTHERWISE SPECIFIED)
     Route: 042
  12. REMICADE [Suspect]
     Active Substance: INFLIXIMAB
     Indication: Product used for unknown indication
     Dosage: UNK
     Route: 065
  13. REMICADE [Suspect]
     Active Substance: INFLIXIMAB
     Dosage: 500 MILLIGRAM; DOSAGE FORM: POWDER FOR SOLUTION INTRAVENOUS, ROUTE: (INTRAVENOUS (NOT OTHERWISE SPEC
     Route: 042
  14. REMICADE [Suspect]
     Active Substance: INFLIXIMAB
     Dosage: UNK
     Route: 065
  15. REMICADE [Suspect]
     Active Substance: INFLIXIMAB
     Dosage: DOSAGE FORM: POWDER FOR SOLUTION INTRAVENOUS
     Route: 042
  16. REMICADE [Suspect]
     Active Substance: INFLIXIMAB
     Dosage: 500 MILLIGRAM
     Route: 042
  17. REMICADE [Suspect]
     Active Substance: INFLIXIMAB
     Dosage: 100 MILLIGRAM
     Route: 042
  18. REMICADE [Suspect]
     Active Substance: INFLIXIMAB
     Dosage: 50 UNK, ROUTE: INTRAVENOUS OTHERWISE NOT SPECIFIED
     Route: 042
  19. SIMPONI [Suspect]
     Active Substance: GOLIMUMAB
     Indication: Rheumatoid arthritis
     Dosage: UNK, DOSAGE FORM: SOLUTION SUBCUTANEOUS
     Route: 058
  20. SIMPONI [Suspect]
     Active Substance: GOLIMUMAB
     Indication: Product used for unknown indication
     Dosage: UNK;DOSAGE FORM: SOLUTION SUBCUTANEOUS
     Route: 065
  21. SIMPONI [Suspect]
     Active Substance: GOLIMUMAB
     Dosage: UNK, DOSAGE FORM: SOLUTION FOR INJECTION IN PRE-FILLED PEN
     Route: 058
  22. SIMPONI [Suspect]
     Active Substance: GOLIMUMAB
     Dosage: UNK
     Route: 058
  23. SIMPONI [Suspect]
     Active Substance: GOLIMUMAB
     Dosage: UNK, DOSAGE FORM: SOLUTION FOR INJECTION IN PRE-FILLED PEN
     Route: 058
  24. SIMPONI [Suspect]
     Active Substance: GOLIMUMAB
     Dosage: UNK
     Route: 065
  25. SIMPONI [Suspect]
     Active Substance: GOLIMUMAB
     Dosage: UNK
     Route: 058
  26. SIMPONI [Suspect]
     Active Substance: GOLIMUMAB
     Dosage: UNK,(DOSAGE FORM:SOLUTION SUBCUTANEOUS)
     Route: 058
  27. SIMPONI [Suspect]
     Active Substance: GOLIMUMAB
     Dosage: UNK
     Route: 058
  28. ACETAMINOPHEN [Suspect]
     Active Substance: ACETAMINOPHEN
     Indication: Product used for unknown indication
     Dosage: UNK,DOSAGE FORM: NOT SPECIFIED
     Route: 065
  29. ACETAMINOPHEN [Suspect]
     Active Substance: ACETAMINOPHEN
     Indication: Rheumatoid arthritis
     Dosage: UNK,DOSAGE FORM: NOT SPECIFIED
     Route: 065
  30. ACETAMINOPHEN [Suspect]
     Active Substance: ACETAMINOPHEN
     Indication: Pyrexia
     Dosage: UNK,DOSAGE FORM: NOT SPECIFIED
     Route: 065
  31. ACETAMINOPHEN [Suspect]
     Active Substance: ACETAMINOPHEN
     Dosage: UNK
     Route: 065
  32. ACETAMINOPHEN [Suspect]
     Active Substance: ACETAMINOPHEN
     Dosage: UNK,DOSAGE FORM NOT SPECIFIED
     Route: 058
  33. ACETAMINOPHEN [Suspect]
     Active Substance: ACETAMINOPHEN
     Dosage: UNK
     Route: 058
  34. ACETAMINOPHEN [Suspect]
     Active Substance: ACETAMINOPHEN
     Dosage: UNK,DOSAGE FORM: NOT SPECIFIED
     Route: 065
  35. ACETAMINOPHEN [Suspect]
     Active Substance: ACETAMINOPHEN
     Dosage: 10 MILLIGRAM (DOSAGE FORM: NOT SPECIFIED)
     Route: 065
  36. ACETAMINOPHEN\OXYCODONE HYDROCHLORIDE [Suspect]
     Active Substance: ACETAMINOPHEN\OXYCODONE HYDROCHLORIDE
     Indication: Product used for unknown indication
     Dosage: UNK
     Route: 065
  37. ACETAMINOPHEN\OXYCODONE HYDROCHLORIDE [Suspect]
     Active Substance: ACETAMINOPHEN\OXYCODONE HYDROCHLORIDE
     Dosage: UNK
     Route: 065
  38. ACETAMINOPHEN\OXYCODONE HYDROCHLORIDE [Suspect]
     Active Substance: ACETAMINOPHEN\OXYCODONE HYDROCHLORIDE
     Dosage: UNK
     Route: 065
  39. ACTEMRA [Suspect]
     Active Substance: TOCILIZUMAB
     Indication: Product used for unknown indication
     Dosage: 752 MILLIGRAM, 1 EVERY 1 WEEK (QW)(DOSAGE FORM:NOT SPECIFIED),INTRAVENOUS(NOT OTHERWISE SPECIFIED)
     Route: 042
  40. ACTEMRA [Suspect]
     Active Substance: TOCILIZUMAB
     Indication: Rheumatoid arthritis
     Dosage: 752.8 MILLIGRAM,(DOSAGE FORM:NOT SPECIFIED)
     Route: 042
  41. ACTEMRA [Suspect]
     Active Substance: TOCILIZUMAB
     Dosage: 752.8 MILLIGRAM, 1 EVERY 1 WEEK (QW), DOSAGE FORM: SOLUTION FOR INJECTION IN PRE-FILLED SYRINGE), RO
     Route: 042
  42. ACTEMRA [Suspect]
     Active Substance: TOCILIZUMAB
     Dosage: 3011.2 MILLIGRAM
     Route: 042
  43. ACTEMRA [Suspect]
     Active Substance: TOCILIZUMAB
     Dosage: UNK
     Route: 058
  44. ACTEMRA [Suspect]
     Active Substance: TOCILIZUMAB
     Dosage: 752.0 MILLIGRAM, DOSAGE FORM: SOLUTION FOR INJECTION IN PRE-FILLED SYRINGE)
     Route: 065
  45. ACTEMRA [Suspect]
     Active Substance: TOCILIZUMAB
     Dosage: 752.8 MILLIGRAM, DOSAGE FORM: SOLUTION FOR INJECTION IN PRE-FILLED SYRINGE)
     Route: 042
  46. ACTEMRA [Suspect]
     Active Substance: TOCILIZUMAB
     Dosage: 728 MILLIGRAM,(DOSAGE FORM:NOT SPECIFIED),INTRAVENOUS(NOT OTHERWISE SPECIFIED)
     Route: 042
  47. ACTEMRA [Suspect]
     Active Substance: TOCILIZUMAB
     Dosage: 20 MILLIGRAM, DOSAGE FORM: SOLUTION FOR INJECTION IN PRE-FILLED SYRINGE)
     Route: 048
  48. ACTEMRA [Suspect]
     Active Substance: TOCILIZUMAB
     Dosage: 728.0 MILLIGRAM, DOSAGE FORM: SOLUTION FOR INJECTION IN PRE-FILLED SYRINGE), ROUTE: INTRAVENOUS (NOT
     Route: 042
  49. ACTEMRA [Suspect]
     Active Substance: TOCILIZUMAB
     Dosage: UNK,(DOSAGE FORM:NOT SPECIFIED)
     Route: 042
  50. ACTEMRA [Suspect]
     Active Substance: TOCILIZUMAB
     Dosage: 728 MILLIGRAM, DOSAGE FORM: SOLUTION FOR INJECTION IN PRE-FILLED SYRINGE), ROUTE: INTRAVENOUS (NOT O
     Route: 042
  51. ACTEMRA [Suspect]
     Active Substance: TOCILIZUMAB
     Dosage: UNK,(DOSAGE FORM:NOT SPECIFIED)
     Route: 065
  52. ACTEMRA [Suspect]
     Active Substance: TOCILIZUMAB
     Dosage: 2912.0 MILLIGRAM,DOSAGE FORM:NOT SPECIFIED,INTRAVENOUS(NOT OTHERWISE SPECIFIED)
     Route: 042
  53. ACTEMRA [Suspect]
     Active Substance: TOCILIZUMAB
     Dosage: 728.0 MILLIGRAM,DOSAGE FORM:NOT SPECIFIED
     Route: 042
  54. ACTEMRA [Suspect]
     Active Substance: TOCILIZUMAB
     Dosage: 3011.2 MILLIGRAM,DOSAGE FORM:NOT SPECIFIED, ROUTE: (INTRAVENOUS (NOT OTHERWISE SPECIFIED)
     Route: 042
  55. ACTEMRA [Suspect]
     Active Substance: TOCILIZUMAB
     Dosage: UNK
     Route: 065
  56. ACTEMRA [Suspect]
     Active Substance: TOCILIZUMAB
     Dosage: 728 MILLIGRAM, 1 EVERY 1 MONTHS
     Route: 042
  57. ACTEMRA [Suspect]
     Active Substance: TOCILIZUMAB
     Dosage: 752.8 MILLIGRAM,DOSAGE FORM:NOT SPECIFIED,INTRAVENOUS(NOT OTHERWISE SPECIFIED)
     Route: 042
  58. ACTEMRA [Suspect]
     Active Substance: TOCILIZUMAB
     Dosage: DOSAGE FORM: SOLUTION FOR INJECTION IN PRE-FILLED SYRINGE
     Route: 065
  59. ACTEMRA [Suspect]
     Active Substance: TOCILIZUMAB
     Dosage: 728.0 MILLIGRAM
     Route: 058
  60. ACTEMRA [Suspect]
     Active Substance: TOCILIZUMAB
     Dosage: DOSAGE FORM NOT SPECIFIED
     Route: 061
  61. ACTEMRA [Suspect]
     Active Substance: TOCILIZUMAB
     Dosage: UNK;DOSAGE FORM NOT SPECIFIED
     Route: 058
  62. ACTEMRA [Suspect]
     Active Substance: TOCILIZUMAB
     Dosage: UNK, DOSAGE FORM: SOLUTION FOR INJECTION IN PRE-FILLED SYRINGE
     Route: 058
  63. ACTEMRA [Suspect]
     Active Substance: TOCILIZUMAB
     Dosage: 728 MILLIGRAM,DOSAGE FORM:NOT SPECIFIED
     Route: 065
  64. ACTEMRA [Suspect]
     Active Substance: TOCILIZUMAB
     Dosage: 752MILLIGRAM,DOSAGEFORM: NOT SPECIFIED
     Route: 065
  65. ACTEMRA [Suspect]
     Active Substance: TOCILIZUMAB
     Dosage: 2912.0 MILLIGRAM,DOSAGE FORM: SOLUTION FOR INJECTION IN PRE-FILLED SYRINGE)
     Route: 065
  66. ACTEMRA [Suspect]
     Active Substance: TOCILIZUMAB
     Dosage: 728.0 MILLIGRAM, DOSAGE FORM: SOLUTION FOR INJECTION IN PRE-FILLED SYRINGE), ROUTE: INTRAVENOUS (NOT
     Route: 042
  67. ACTEMRA [Suspect]
     Active Substance: TOCILIZUMAB
     Dosage: 3011.2 MILLIGRAM, DOSAGE FORM: SOLUTION FOR INJECTION IN PRE-FILLED SYRINGE), ROUTE: INTRAVENOUS (NO
     Route: 042
  68. ACTEMRA [Suspect]
     Active Substance: TOCILIZUMAB
     Dosage: 752.8 MILLIGRAM, 1 EVERY 1 WEEK (QW), DOSAGE FORM: SOLUTION FOR INJECTION IN PRE-FILLED SYRINGE), RO
     Route: 042
  69. ACTEMRA [Suspect]
     Active Substance: TOCILIZUMAB
     Dosage: 752.0 MILLIGRAM, DOSAGE FORM: SOLUTION FOR INJECTION IN PRE-FILLED SYRINGE), ROUTE: INTRAVENOUS (NOT
     Route: 042
  70. ACTEMRA [Suspect]
     Active Substance: TOCILIZUMAB
     Dosage: 3011.2 MILLIGRAM, DOSAGE FORM: SOLUTION FOR INJECTION IN PRE-FILLED SYRINGE), ROUTE: INTRAVENOUS (NO
     Route: 042
  71. ACTEMRA [Suspect]
     Active Substance: TOCILIZUMAB
     Dosage: 728.0 MILLIGRAM, DOSAGE FORM: SOLUTION FOR INJECTION IN PRE-FILLED SYRINGE), ROUTE: INTRAVENOUS (NOT
     Route: 042
  72. ACTEMRA [Suspect]
     Active Substance: TOCILIZUMAB
     Dosage: 20 MILLIGRAM,(DOSAGE FORM:NOT SPECIFIED)
     Route: 048
  73. ACTEMRA [Suspect]
     Active Substance: TOCILIZUMAB
     Dosage: UNK,(DOSAGE FORM:NOT SPECIFIED),(DOSAGE FOM:NOT SPECIFIED)
     Route: 042
  74. ALENDRONIC ACID [Suspect]
     Active Substance: ALENDRONIC ACID
     Indication: Rheumatoid arthritis
     Dosage: UNK; NGX
     Route: 048
  75. ALENDRONIC ACID [Suspect]
     Active Substance: ALENDRONIC ACID
     Indication: Product used for unknown indication
     Dosage: UNK,DOSAGE FORM NOT SPECIFIED
     Route: 048
  76. DICLOFENAC SODIUM [Suspect]
     Active Substance: DICLOFENAC\DICLOFENAC SODIUM
     Indication: Product used for unknown indication
     Dosage: UNK
     Route: 065
  77. DICLOFENAC SODIUM [Suspect]
     Active Substance: DICLOFENAC\DICLOFENAC SODIUM
     Dosage: UNK, (DOSAGE FORM: NOT SPECIFIED)
     Route: 047
  78. DICLOFENAC SODIUM [Suspect]
     Active Substance: DICLOFENAC\DICLOFENAC SODIUM
     Dosage: 50 MILLIGRAM (DOSAGE FORM: TABLET ENTERIC COATED)
     Route: 065
  79. PREDNISONE [Suspect]
     Active Substance: PREDNISONE
     Indication: Product used for unknown indication
     Dosage: 7.5 MILLIGRAM
     Route: 048
  80. PREDNISONE [Suspect]
     Active Substance: PREDNISONE
     Indication: Rheumatoid arthritis
     Dosage: UNK,(DOSAGE FORM:NOT SPECIFIED)
     Route: 065
  81. PREDNISONE [Suspect]
     Active Substance: PREDNISONE
     Dosage: UNK,(DOSAGE FORM:NOT SPECIFIED)
     Route: 048
  82. PREDNISONE [Suspect]
     Active Substance: PREDNISONE
     Dosage: UNK,(DOSAGE FORM:NOT SPECIFIED)
     Route: 065
  83. PREDNISONE [Suspect]
     Active Substance: PREDNISONE
     Dosage: UNK
     Route: 065
  84. PREDNISONE [Suspect]
     Active Substance: PREDNISONE
     Dosage: 40 MILLIGRAM
     Route: 065
  85. ARAVA [Suspect]
     Active Substance: LEFLUNOMIDE
     Indication: Product used for unknown indication
     Dosage: UNK
     Route: 048
  86. ARAVA [Suspect]
     Active Substance: LEFLUNOMIDE
     Indication: Rheumatoid arthritis
     Dosage: 20 MILLIGRAM, 1 EVERY 1 DAYS
     Route: 048
  87. ARAVA [Suspect]
     Active Substance: LEFLUNOMIDE
     Dosage: 20 MILLIGRAM
     Route: 065
  88. ARAVA [Suspect]
     Active Substance: LEFLUNOMIDE
     Dosage: 20 MILLIGRAM
     Route: 048
  89. ARAVA [Suspect]
     Active Substance: LEFLUNOMIDE
     Dosage: UNK
     Route: 048
  90. ARAVA [Suspect]
     Active Substance: LEFLUNOMIDE
     Dosage: UNK
     Route: 065
  91. ARAVA [Suspect]
     Active Substance: LEFLUNOMIDE
     Dosage: 2000 MILLIGRAM, 1 EVERY 1 DAYS
     Route: 048
  92. ARAVA [Suspect]
     Active Substance: LEFLUNOMIDE
     Dosage: 20 MILLIGRAM, ONE EVERY ONE DAY
     Route: 048
  93. ARAVA [Suspect]
     Active Substance: LEFLUNOMIDE
     Dosage: 20 MILLIGRAM, ONE EVERY ONE DAY
     Route: 048
  94. ARAVA [Suspect]
     Active Substance: LEFLUNOMIDE
     Dosage: 20 MILLIGRAM, 1 EVERY 1 WEEKS
     Route: 048
  95. CETIRIZINE [Suspect]
     Active Substance: CETIRIZINE HYDROCHLORIDE
     Indication: Rheumatoid arthritis
     Dosage: 20 MILLIGRAM, (DOSAGE FORM: NOT SPECIFIED)
     Route: 065
  96. CETIRIZINE [Suspect]
     Active Substance: CETIRIZINE HYDROCHLORIDE
     Indication: Product used for unknown indication
     Dosage: 10 MILLIGRAM
     Route: 016
  97. CETIRIZINE [Suspect]
     Active Substance: CETIRIZINE HYDROCHLORIDE
     Indication: Urticaria
     Dosage: 10 MILLIGRAM,(DOSAGE FORM:NOT SPECIFIED)
     Route: 065
  98. CETIRIZINE [Suspect]
     Active Substance: CETIRIZINE HYDROCHLORIDE
     Dosage: UNK
     Route: 065
  99. CETIRIZINE [Suspect]
     Active Substance: CETIRIZINE HYDROCHLORIDE
     Dosage: UNK,(DOSAGE FORM:NOT SPECIFIED)
     Route: 065
  100. CETIRIZINE [Suspect]
     Active Substance: CETIRIZINE HYDROCHLORIDE
     Dosage: 25 MILLIGRAM,(DOSAGE FORM:NOT SPECIFIED)
     Route: 048
  101. CETIRIZINE [Suspect]
     Active Substance: CETIRIZINE HYDROCHLORIDE
     Dosage: 10 MILLIGRAM,(DOSAGE FORM:NOT SPECIFIED)
     Route: 048
  102. CHLORAPREP [Suspect]
     Active Substance: CHLORHEXIDINE GLUCONATE\ISOPROPYL ALCOHOL
     Indication: Product used for unknown indication
     Dosage: UNK, (DOSAGE FORM: SOLUTION)
     Route: 061
  103. CHLORAPREP [Suspect]
     Active Substance: CHLORHEXIDINE GLUCONATE\ISOPROPYL ALCOHOL
     Dosage: UNK
     Route: 065
  104. CHLORAPREP [Suspect]
     Active Substance: CHLORHEXIDINE GLUCONATE\ISOPROPYL ALCOHOL
     Dosage: UNK
     Route: 048
  105. CHLORAPREP [Suspect]
     Active Substance: CHLORHEXIDINE GLUCONATE\ISOPROPYL ALCOHOL
     Dosage: UNK
     Route: 061
  106. CHLORAPREP [Suspect]
     Active Substance: CHLORHEXIDINE GLUCONATE\ISOPROPYL ALCOHOL
     Dosage: UNK
     Route: 048
  107. CHLORAPREP [Suspect]
     Active Substance: CHLORHEXIDINE GLUCONATE\ISOPROPYL ALCOHOL
     Dosage: UNK, DOSAGE FORM: NOT SPECIFIED
     Route: 065
  108. CHLORHEXIDINE [Suspect]
     Active Substance: CHLORHEXIDINE\CHLORHEXIDINE GLUCONATE
     Indication: Product used for unknown indication
     Dosage: UNK, DOSAGE FORM: NOT SPECIFIED
     Route: 061
  109. CHLORHEXIDINE [Suspect]
     Active Substance: CHLORHEXIDINE\CHLORHEXIDINE GLUCONATE
     Dosage: UNK, DOSAGE FORM: NOT SPECIFIED
     Route: 061
  110. CHLORHEXIDINE [Suspect]
     Active Substance: CHLORHEXIDINE\CHLORHEXIDINE GLUCONATE
     Dosage: UNK, DOSAGE FORM: NOT SPECIFIED
     Route: 061
  111. CHLORHEXIDINE [Suspect]
     Active Substance: CHLORHEXIDINE\CHLORHEXIDINE GLUCONATE
     Dosage: UNK, DOSAGE FORM: NOT SPECIFIED
     Route: 048
  112. CHLORHEXIDINE [Suspect]
     Active Substance: CHLORHEXIDINE\CHLORHEXIDINE GLUCONATE
     Dosage: UNK, DOSAGE FORM: NOT SPECIFIED
     Route: 048
  113. CHLORHEXIDINE [Suspect]
     Active Substance: CHLORHEXIDINE\CHLORHEXIDINE GLUCONATE
     Dosage: UNK, DOSAGE FORM: NOT SPECIFIED
     Route: 065
  114. CHLORHEXIDINE [Suspect]
     Active Substance: CHLORHEXIDINE\CHLORHEXIDINE GLUCONATE
     Dosage: UNK, DOSAGE FORM: NOT SPECIFIED
     Route: 065
  115. CHLORHEXIDINE [Suspect]
     Active Substance: CHLORHEXIDINE\CHLORHEXIDINE GLUCONATE
     Dosage: UNK DOSAGE FORM: NOT SPECIFIED
     Route: 002
  116. CHLORHEXIDINE GLUCONATE [Suspect]
     Active Substance: CHLORHEXIDINE GLUCONATE
     Indication: Product used for unknown indication
     Dosage: UNK
     Route: 065
  117. CHLORHEXIDINE GLUCONATE [Suspect]
     Active Substance: CHLORHEXIDINE GLUCONATE
     Dosage: UNK
     Route: 002
  118. CHLORHEXIDINE GLUCONATE [Suspect]
     Active Substance: CHLORHEXIDINE GLUCONATE
     Dosage: UNK
     Route: 048
  119. CHLORHEXIDINE GLUCONATE [Suspect]
     Active Substance: CHLORHEXIDINE GLUCONATE
     Dosage: UNK
     Route: 048
  120. CHLORHEXIDINE GLUCONATE [Suspect]
     Active Substance: CHLORHEXIDINE GLUCONATE
     Dosage: UNK
     Route: 016
  121. CHLORHEXIDINE GLUCONATE [Suspect]
     Active Substance: CHLORHEXIDINE GLUCONATE
     Dosage: UNK
     Route: 061
  122. CHLORHEXIDINE GLUCONATE [Suspect]
     Active Substance: CHLORHEXIDINE GLUCONATE
     Dosage: UNK
     Route: 061
  123. CIMZIA [Suspect]
     Active Substance: CERTOLIZUMAB PEGOL
     Indication: Rheumatoid arthritis
     Dosage: UNK; SOLUTION FOR INJECTION IN PREFILLED SYRINGE, ROUTE (INTRAVENOUS (NOT OTHERWISE SPECIFIED)
     Route: 042
  124. CIMZIA [Suspect]
     Active Substance: CERTOLIZUMAB PEGOL
     Indication: Product used for unknown indication
     Dosage: UNK
     Route: 058
  125. CIMZIA [Suspect]
     Active Substance: CERTOLIZUMAB PEGOL
     Dosage: UNK
     Route: 058
  126. CIMZIA [Suspect]
     Active Substance: CERTOLIZUMAB PEGOL
     Dosage: UNK
     Route: 065
  127. CIMZIA [Suspect]
     Active Substance: CERTOLIZUMAB PEGOL
     Dosage: UNK
     Route: 058
  128. CIMZIA [Suspect]
     Active Substance: CERTOLIZUMAB PEGOL
     Dosage: UNK
     Route: 065
  129. CIMZIA [Suspect]
     Active Substance: CERTOLIZUMAB PEGOL
     Dosage: UNK,(DOSAGE FORM:NOT SPECIFIED)
     Route: 042
  130. CORTISONE ACETATE [Suspect]
     Active Substance: CORTISONE ACETATE
     Indication: Rheumatoid arthritis
     Dosage: 25 MILLIGRAM, QD
     Route: 061
  131. CORTISONE ACETATE [Suspect]
     Active Substance: CORTISONE ACETATE
     Indication: Product used for unknown indication
     Dosage: 20 MILLIGRAM
     Route: 061
  132. CORTISONE ACETATE [Suspect]
     Active Substance: CORTISONE ACETATE
     Dosage: 25 MILLIGRAM
     Route: 065
  133. CORTISONE ACETATE [Suspect]
     Active Substance: CORTISONE ACETATE
     Dosage: UNK
     Route: 065
  134. CORTISONE ACETATE [Suspect]
     Active Substance: CORTISONE ACETATE
     Dosage: 25 MILLIGRAM
     Route: 065
  135. CORTISONE ACETATE [Suspect]
     Active Substance: CORTISONE ACETATE
     Dosage: 25 MILLIGRAM
     Route: 065
  136. CORTISONE ACETATE [Suspect]
     Active Substance: CORTISONE ACETATE
     Dosage: 25 MILLIGRAM
     Route: 061
  137. CORTISONE ACETATE [Suspect]
     Active Substance: CORTISONE ACETATE
     Dosage: 25 MILLIGRAM
     Route: 061
  138. CORTISONE ACETATE [Suspect]
     Active Substance: CORTISONE ACETATE
     Dosage: UNK
     Route: 065
  139. CORTISONE ACETATE [Suspect]
     Active Substance: CORTISONE ACETATE
     Dosage: UNK,DOSAGE FORM NOT SPECIFIED
     Route: 061
  140. DESOXIMETASONE [Suspect]
     Active Substance: DESOXIMETASONE
     Indication: Rheumatoid arthritis
     Dosage: UNK; DOSAGE FORM: NOT SPECIFIED
     Route: 048
  141. DESOXIMETASONE [Suspect]
     Active Substance: DESOXIMETASONE
     Indication: Product used for unknown indication
     Dosage: UNK
     Route: 058
  142. DESOXIMETASONE [Suspect]
     Active Substance: DESOXIMETASONE
     Dosage: UNK,DOSAGE FORM NOT SPECIFIED
     Route: 061
  143. DESOXIMETASONE [Suspect]
     Active Substance: DESOXIMETASONE
     Dosage: UNK
     Route: 003
  144. DESOXIMETASONE [Suspect]
     Active Substance: DESOXIMETASONE
     Dosage: UNK
     Route: 065
  145. DESOXIMETASONE [Suspect]
     Active Substance: DESOXIMETASONE
     Dosage: UNK, DOSAGE FORM : NOT SPECIFIED
     Route: 003
  146. DESOXIMETASONE [Suspect]
     Active Substance: DESOXIMETASONE
     Dosage: UNK
     Route: 048
  147. DESOXIMETASONE [Suspect]
     Active Substance: DESOXIMETASONE
     Dosage: 25 MILLIGRAM, 1 EVERY 1 DAY
     Route: 048
  148. ENBREL [Suspect]
     Active Substance: ETANERCEPT
     Indication: Rheumatoid arthritis
     Dosage: UNK
     Route: 058
  149. ENBREL [Suspect]
     Active Substance: ETANERCEPT
     Indication: Product used for unknown indication
     Dosage: 90 MILLIGRAM
     Route: 058
  150. ENBREL [Suspect]
     Active Substance: ETANERCEPT
     Indication: Psoriatic arthropathy
     Dosage: 50 MILLIGRAM
     Route: 058
  151. ENBREL [Suspect]
     Active Substance: ETANERCEPT
     Dosage: UNK
     Route: 065
  152. ENBREL [Suspect]
     Active Substance: ETANERCEPT
     Dosage: DOSAGE FORM: NOT SPECIFIED
     Route: 065
  153. ENBREL [Suspect]
     Active Substance: ETANERCEPT
     Dosage: UNK
     Route: 058
  154. ENBREL [Suspect]
     Active Substance: ETANERCEPT
     Dosage: 20 MILLIGRAM
     Route: 058
  155. ENBREL [Suspect]
     Active Substance: ETANERCEPT
     Dosage: UNK
     Route: 048
  156. ENBREL [Suspect]
     Active Substance: ETANERCEPT
     Dosage: 50 MILLIGRAM, 1 EVERY 2 WEEKS
     Route: 058
  157. ENBREL [Suspect]
     Active Substance: ETANERCEPT
     Dosage: 90 MILLIGRAM
     Route: 058
  158. ENBREL [Suspect]
     Active Substance: ETANERCEPT
     Dosage: 20 MILLIGRAM, 1 EVERY 1 WEEKS
     Route: 058
  159. ENBREL [Suspect]
     Active Substance: ETANERCEPT
     Dosage: 25 MILLIGRAM
     Route: 061
  160. ENBREL [Suspect]
     Active Substance: ETANERCEPT
     Dosage: 50 MILLIGRAM,1 EVERY 2 WEEKS
     Route: 058
  161. ENBREL [Suspect]
     Active Substance: ETANERCEPT
     Dosage: 50 MILLIGRAM, 1 EVERY 1 WEEKS
     Route: 058
  162. FOLIC ACID [Suspect]
     Active Substance: FOLIC ACID
     Indication: Product used for unknown indication
     Dosage: UNK
     Route: 058
  163. FOLIC ACID [Suspect]
     Active Substance: FOLIC ACID
     Indication: Rheumatoid arthritis
     Dosage: UNK, DOSAGE FORM: NOT SPECIFIED
     Route: 065
  164. FOLIC ACID [Suspect]
     Active Substance: FOLIC ACID
     Dosage: 5 MILLIGRAM
     Route: 065
  165. FOLIC ACID [Suspect]
     Active Substance: FOLIC ACID
     Dosage: 1 MILLIGRAM
     Route: 048
  166. FOLIC ACID [Suspect]
     Active Substance: FOLIC ACID
     Dosage: 5 MILLIGRAM
     Route: 065
  167. FOLIC ACID [Suspect]
     Active Substance: FOLIC ACID
     Dosage: 1 MILLIGRAM
     Route: 058
  168. FOLIC ACID [Suspect]
     Active Substance: FOLIC ACID
     Dosage: 1 GRAM
     Route: 065
  169. FOLIC ACID [Suspect]
     Active Substance: FOLIC ACID
     Dosage: UNK,DOSAGE FORM NOT SPECIFIED
     Route: 065
  170. FOLIC ACID [Suspect]
     Active Substance: FOLIC ACID
     Dosage: 1 MILLIGRAM; DOSAGE FORM NOT SPECIFIED
     Route: 048
  171. FOLIC ACID [Suspect]
     Active Substance: FOLIC ACID
     Dosage: 1 MILLIGRAM; DOSAGE FORM NOT SPECIFIED
     Route: 048
  172. FOLIC ACID [Suspect]
     Active Substance: FOLIC ACID
     Dosage: 1 MILLIGRAM; DOSAGE FORM NOT SPECIFIED
     Route: 065
  173. FOLIC ACID [Suspect]
     Active Substance: FOLIC ACID
     Dosage: 5 MILLIGRAM; DOSAGE FORM NOT SPECIFIED
     Route: 048
  174. FOLIC ACID [Suspect]
     Active Substance: FOLIC ACID
     Dosage: 25 MILLIGRAM; DOSAGE FORM NOT SPECIFIED
     Route: 048
  175. FOLIC ACID [Suspect]
     Active Substance: FOLIC ACID
     Dosage: 1 MILLIGRAM DOSAGE FORM NOT SPECIFIED
     Route: 065
  176. FOLIC ACID [Suspect]
     Active Substance: FOLIC ACID
     Dosage: 5 MILLIGRAM DOSAGE FORM NOT SPECIFIED
     Route: 065
  177. FOLIC ACID [Suspect]
     Active Substance: FOLIC ACID
     Dosage: 10 MILLIGRAM
     Route: 058
  178. FOLIC ACID [Suspect]
     Active Substance: FOLIC ACID
     Dosage: 1 MILLIGRAM DOSAGE FORM UNKNOWN
     Route: 065
  179. FOLIC ACID [Suspect]
     Active Substance: FOLIC ACID
     Dosage: 15 MILLIGRAM,(DOSAGE FORM:NOT SPECIFIED)
     Route: 065
  180. FOLIC ACID [Suspect]
     Active Substance: FOLIC ACID
     Dosage: 500 MILLIGRAM,(DOSAGE FORM:NOT SPECIFIED)
     Route: 065
  181. GOLIMUMAB [Suspect]
     Active Substance: GOLIMUMAB
     Indication: Rheumatoid arthritis
     Dosage: UNK
     Route: 058
  182. HUMIRA [Suspect]
     Active Substance: ADALIMUMAB
     Indication: Rheumatoid arthritis
     Dosage: 40 MILLIGRAM; DOSAGE FORM: SOLUTION SUBCUTANEOUS
     Route: 058
  183. HUMIRA [Suspect]
     Active Substance: ADALIMUMAB
     Indication: Psoriatic arthropathy
     Dosage: 40 MILLIGRAM; DOSAGE FORM: SOLUTION SUBCUTANEOUS
     Route: 058
  184. HUMIRA [Suspect]
     Active Substance: ADALIMUMAB
     Indication: Psoriasis
     Dosage: 40 MILLIGRAM; DOSAGE FORM: SOLUTION SUBCUTANEOUS
     Route: 058
  185. HUMIRA [Suspect]
     Active Substance: ADALIMUMAB
     Indication: Crohn^s disease
     Dosage: UNK,DOSAGE FORM NOT SPECIFIED
     Route: 058
  186. HUMIRA [Suspect]
     Active Substance: ADALIMUMAB
     Indication: Ankylosing spondylitis
     Dosage: UNK; DOSAGE FORM: NOT SPECIFIED
     Route: 065
  187. HUMIRA [Suspect]
     Active Substance: ADALIMUMAB
     Indication: Product used for unknown indication
     Dosage: UNK; DOSAGE FORM: NOT SPECIFIED
     Route: 065
  188. HUMIRA [Suspect]
     Active Substance: ADALIMUMAB
     Dosage: UNK; DOSAGE FORM: NOT SPECIFIED
     Route: 065
  189. HUMIRA [Suspect]
     Active Substance: ADALIMUMAB
     Dosage: UNK; DOSAGE FORM: NOT SPECIFIED
     Route: 065
  190. HUMIRA [Suspect]
     Active Substance: ADALIMUMAB
     Dosage: 40 MILLIGRAM; DOSAGE FORM: SOLUTION SUBCUTANEOUS
     Route: 065
  191. HUMIRA [Suspect]
     Active Substance: ADALIMUMAB
     Dosage: 3011.2 MILLIGRAM; DOSAGE FORM: SOLUTION SUBCUTANEOUS
     Route: 042
  192. HUMIRA [Suspect]
     Active Substance: ADALIMUMAB
     Dosage: 40 MILLIGRAM,(DOSAGE FORM:NOT SPECIFIED)
     Route: 058
  193. HYDROXYCHLOROQUINE SULFATE [Suspect]
     Active Substance: HYDROXYCHLOROQUINE SULFATE
     Indication: Rheumatoid arthritis
     Dosage: UNK,DOSAGE FORM NOT SPECIFIED
     Route: 048
  194. HYDROXYCHLOROQUINE SULFATE [Suspect]
     Active Substance: HYDROXYCHLOROQUINE SULFATE
     Indication: Product used for unknown indication
     Dosage: 400 MILLIGRAM, 1 EVERY 1 DAYS,(DOSAGE FORM:NOT SPECIFIED)
     Route: 048
  195. HYDROXYCHLOROQUINE SULFATE [Suspect]
     Active Substance: HYDROXYCHLOROQUINE SULFATE
     Indication: Systemic lupus erythematosus
     Dosage: 5 MILLIGRAM,(DOSAGE FORM:NOT SPECIFIED)
     Route: 048
  196. HYDROXYCHLOROQUINE SULFATE [Suspect]
     Active Substance: HYDROXYCHLOROQUINE SULFATE
     Dosage: 400 MILLIGRAM, 1 EVERY 1 DAYS
     Route: 048
  197. HYDROXYCHLOROQUINE SULFATE [Suspect]
     Active Substance: HYDROXYCHLOROQUINE SULFATE
     Dosage: UNK,DOSAGE FORM NOT SPECIFIED
     Route: 065
  198. HYDROXYCHLOROQUINE SULFATE [Suspect]
     Active Substance: HYDROXYCHLOROQUINE SULFATE
     Dosage: 400 MILLIGRAM,DOSAGE FORM NOT SPECIFIED
     Route: 048
  199. HYDROXYCHLOROQUINE SULFATE [Suspect]
     Active Substance: HYDROXYCHLOROQUINE SULFATE
     Dosage: 400 MILLIGRAM,DOSAGE FORM NOT SPECIFIED
     Route: 065
  200. HYDROXYCHLOROQUINE SULFATE [Suspect]
     Active Substance: HYDROXYCHLOROQUINE SULFATE
     Dosage: 400 MILLIGRAM,DOSAGE FORM NOT SPECIFIED
     Route: 048
  201. HYDROXYCHLOROQUINE SULFATE [Suspect]
     Active Substance: HYDROXYCHLOROQUINE SULFATE
     Dosage: 400 MILLIGRAM, 1 EVERY 1 DAY,DOSAGE FORM NOT SPECIFIED
     Route: 065
  202. HYDROXYCHLOROQUINE SULFATE [Suspect]
     Active Substance: HYDROXYCHLOROQUINE SULFATE
     Dosage: 40 MILLIGRAM
     Route: 048
  203. HYDROXYCHLOROQUINE SULFATE [Suspect]
     Active Substance: HYDROXYCHLOROQUINE SULFATE
     Dosage: 400 MILLIGRAM
     Route: 048
  204. HYDROXYCHLOROQUINE SULFATE [Suspect]
     Active Substance: HYDROXYCHLOROQUINE SULFATE
     Dosage: UNK
     Route: 048
  205. HYDROXYCHLOROQUINE SULFATE [Suspect]
     Active Substance: HYDROXYCHLOROQUINE SULFATE
     Dosage: UNK
     Route: 065
  206. HYDROXYCHLOROQUINE SULFATE [Suspect]
     Active Substance: HYDROXYCHLOROQUINE SULFATE
     Dosage: 400 MILLIGRAM, 1 EVERY 24 HOURS
     Route: 048
  207. HYDROXYCHLOROQUINE SULFATE [Suspect]
     Active Substance: HYDROXYCHLOROQUINE SULFATE
     Dosage: 200 MILLIGRAM, 1 EVERY 5 DAYS
     Route: 065
  208. HYDROXYCHLOROQUINE SULFATE [Suspect]
     Active Substance: HYDROXYCHLOROQUINE SULFATE
     Dosage: 40 MILLIGRAM,(DOSAGE FORM:NOT SPECIFIED)
     Route: 065
  209. INFLIXIMAB [Suspect]
     Active Substance: INFLIXIMAB
     Indication: Rheumatoid arthritis
     Dosage: UNK, DOSAGE FORM: NOT SPECIFIED
     Route: 065
  210. INFLIXIMAB [Suspect]
     Active Substance: INFLIXIMAB
     Indication: Product used for unknown indication
     Dosage: 500 MILLIGRAM, CYCLICAL, DOSAGE FORM: NOT SPECIFIED
     Route: 042
  211. INFLIXIMAB [Suspect]
     Active Substance: INFLIXIMAB
     Dosage: UNK, (DOSAGE FORM: NOT SPECIFIED),INTRAVENOUS(NOT OTHERWISE SPECIFIED)
     Route: 042
  212. INFLIXIMAB [Suspect]
     Active Substance: INFLIXIMAB
     Dosage: 500 MILLIGRAM,(DOSAGE FORM NOT SPECIFIED),INTRAVENOUS(NOT OTHERWISE SPECIFIED)
     Route: 042
  213. LEFLUNOMIDE [Suspect]
     Active Substance: LEFLUNOMIDE
     Indication: Rheumatoid arthritis
     Dosage: UNK,DOSAGE FORM NOT SPECIFIED
     Route: 065
  214. LEFLUNOMIDE [Suspect]
     Active Substance: LEFLUNOMIDE
     Indication: Product used for unknown indication
     Dosage: UNK, DOSAGE FORM: NOT SPECIFIED
     Route: 048
  215. LEFLUNOMIDE [Suspect]
     Active Substance: LEFLUNOMIDE
     Dosage: UNK; DOSAGE FORM: TABLET
     Route: 048
  216. METHOTREXATE [Suspect]
     Active Substance: METHOTREXATE
     Indication: Rheumatoid arthritis
     Dosage: UNK,,DOSAGE FORM NOT SPECIFIED,INTRAVENOUS(NOT OTHERWISE SPECIFIED)
     Route: 042
  217. METHOTREXATE [Suspect]
     Active Substance: METHOTREXATE
     Indication: Product used for unknown indication
     Dosage: 20 MILLIGRAM, 1 EVERY 1 WEEKS,(DOSAGE FORM:NOT SPECIFIED)
     Route: 048
  218. METHOTREXATE [Suspect]
     Active Substance: METHOTREXATE
     Dosage: UNK,,DOSAGE FORM NOT SPECIFIED
     Route: 048
  219. METHOTREXATE [Suspect]
     Active Substance: METHOTREXATE
     Dosage: UNK,(DOSAGE FORM:NOT SPECIFIED)
     Route: 048
  220. METHOTREXATE [Suspect]
     Active Substance: METHOTREXATE
     Dosage: 20 MILLIGRAM, 1 EVERY 1 WEEKS,(DOSAGE FORM:NOT SPECIFIED)
     Route: 048
  221. METHOTREXATE [Suspect]
     Active Substance: METHOTREXATE
     Dosage: UNK
     Route: 058
  222. METHOTREXATE [Suspect]
     Active Substance: METHOTREXATE
     Dosage: UNK,(DOSAGE FORM:NOT SPECIFIED)
     Route: 048
  223. METHOTREXATE [Suspect]
     Active Substance: METHOTREXATE
     Dosage: 20 MILLIGRAM,DOSAGE FORM NOT SPECIFIED
     Route: 048
  224. METHOTREXATE [Suspect]
     Active Substance: METHOTREXATE
     Dosage: 25 MILLIGRAM, 1 EVERY ONE DAYS
     Route: 048
  225. METHOTREXATE [Suspect]
     Active Substance: METHOTREXATE
     Dosage: UNK
     Route: 065
  226. METHOTREXATE [Suspect]
     Active Substance: METHOTREXATE
     Dosage: UNK,DOSAGE FORM NOT SPECIFIED
     Route: 065
  227. METHOTREXATE [Suspect]
     Active Substance: METHOTREXATE
     Dosage: 25 MILLIGRAM,DOSAGE FORM NOT SPECIFIED
     Route: 048
  228. METHOTREXATE [Suspect]
     Active Substance: METHOTREXATE
     Dosage: 25 MILLIGRAM
     Route: 048
  229. METHOTREXATE [Suspect]
     Active Substance: METHOTREXATE
     Dosage: 20 MILLIGRAM, 1 EVERY 1 WEEKS
     Route: 013
  230. METHOTREXATE [Suspect]
     Active Substance: METHOTREXATE
     Dosage: 25 MILLIGRAM, 1 EVERY 1 DAYS
     Route: 013
  231. METHOTREXATE [Suspect]
     Active Substance: METHOTREXATE
     Dosage: 25 MILLIGRAM,(DOSAGE FORM:NOT SPECIFIED)
     Route: 013
  232. METHOTREXATE [Suspect]
     Active Substance: METHOTREXATE
     Dosage: 20 MILLIGRAM,1 EVERY 1 DAYS,DOSAGE FORM NOT SPECIFIED
     Route: 048
  233. METHOTREXATE [Suspect]
     Active Substance: METHOTREXATE
     Dosage: 25 MILLIGRAM  (DOSAGE FORM: NOT SPECIFIED)
     Route: 058
  234. METHOTREXATE [Suspect]
     Active Substance: METHOTREXATE
     Dosage: 20 MILLIGRAM,DOSAGE FORM NOT SPECIFIED
     Route: 013
  235. METHOTREXATE [Suspect]
     Active Substance: METHOTREXATE
     Dosage: 20 MILLIGRAM
     Route: 065
  236. METHOTREXATE [Suspect]
     Active Substance: METHOTREXATE
     Dosage: 25 MILLIGRAM, 1 EVERY 1 DAYS
     Route: 048
  237. METHOTREXATE [Suspect]
     Active Substance: METHOTREXATE
     Dosage: 20 MILLIGRAM
     Route: 048
  238. METHOTREXATE [Suspect]
     Active Substance: METHOTREXATE
     Dosage: UNK,DOSAGE FORM NOT SPECIFIED
     Route: 042
  239. METHOTREXATE [Suspect]
     Active Substance: METHOTREXATE
     Dosage: 25 MILLIGRAM,(DOSAGE FORM:NOT SPECIFIED)
     Route: 065
  240. METHOTREXATE [Suspect]
     Active Substance: METHOTREXATE
     Dosage: 225 MILLIGRAM,(DOSAGE FORM:NOT SPECIFIED)
     Route: 048
  241. ORENCIA [Suspect]
     Active Substance: ABATACEPT
     Indication: Product used for unknown indication
     Dosage: 18 MILLIGRAM; 1 EVERY 1 DAY
     Route: 058
  242. ORENCIA [Suspect]
     Active Substance: ABATACEPT
     Indication: Rheumatoid arthritis
     Dosage: 1 EVERY 1 DAY
     Route: 058
  243. ORENCIA [Suspect]
     Active Substance: ABATACEPT
     Dosage: UNK
     Route: 042
  244. ORENCIA [Suspect]
     Active Substance: ABATACEPT
     Dosage: 17.857 MILLIGRAM; 1 EVERY 1 DAY,INTRAVENOUS(NOT OTHERWISE SPECIFIED)
     Route: 042
  245. ORENCIA [Suspect]
     Active Substance: ABATACEPT
     Dosage: 120 MILLIGRAM; 1 EVERY 1 WEEKS
     Route: 058
  246. ORENCIA [Suspect]
     Active Substance: ABATACEPT
     Dosage: 125 MILLIGRAM; 1 EVERY 1 WEEKS,INTRAVENOUS(NOT OTHERWISE SPECIFIED)
     Route: 042
  247. ORENCIA [Suspect]
     Active Substance: ABATACEPT
     Dosage: 17.857, 1 EVERY 1 DAYS
     Route: 058
  248. ORENCIA [Suspect]
     Active Substance: ABATACEPT
     Dosage: UNK
     Route: 042
  249. ORENCIA [Suspect]
     Active Substance: ABATACEPT
     Dosage: 125 MILLIGRAM, 1 EVERY 1 WEEKS
     Route: 058
  250. ORENCIA [Suspect]
     Active Substance: ABATACEPT
     Dosage: UNK
     Route: 015
  251. ORENCIA [Suspect]
     Active Substance: ABATACEPT
     Dosage: UNK
     Route: 058
  252. ORENCIA [Suspect]
     Active Substance: ABATACEPT
     Dosage: UNK
     Route: 042
  253. ORENCIA [Suspect]
     Active Substance: ABATACEPT
     Dosage: UNK
     Route: 065
  254. ORENCIA [Suspect]
     Active Substance: ABATACEPT
     Dosage: UNK
     Route: 065
  255. ORENCIA [Suspect]
     Active Substance: ABATACEPT
     Dosage: 125 MILLIGRAM
     Route: 058
  256. ORENCIA [Suspect]
     Active Substance: ABATACEPT
     Dosage: UNK
     Route: 058
  257. ORENCIA [Suspect]
     Active Substance: ABATACEPT
     Dosage: 125 MILLIGRAM, 1 EVERY 1 WEEKS
     Route: 058
  258. ORENCIA [Suspect]
     Active Substance: ABATACEPT
     Dosage: 17.875 MILLIGRAM,1 EVERY 1 DAYS
     Route: 058
  259. OXYCODONE HYDROCHLORIDE [Suspect]
     Active Substance: OXYCODONE HYDROCHLORIDE
     Indication: Product used for unknown indication
     Dosage: DOSAGE FORM: NOT SPECIFIED
     Route: 065
  260. OXYCODONE HYDROCHLORIDE [Suspect]
     Active Substance: OXYCODONE HYDROCHLORIDE
     Dosage: DOSAGE FORM: TABLET
     Route: 065
  261. OXYCODONE HYDROCHLORIDE [Suspect]
     Active Substance: OXYCODONE HYDROCHLORIDE
     Dosage: DOSAGE FORM: NOT SPECIFIED
     Route: 065
  262. OXYCODONE HYDROCHLORIDE [Suspect]
     Active Substance: OXYCODONE HYDROCHLORIDE
     Dosage: DOSAGE FORM: NOT SPECIFIED
     Route: 065
  263. OXYCODONE TEREPHTHALATE [Suspect]
     Active Substance: OXYCODONE TEREPHTHALATE
     Indication: Product used for unknown indication
     Dosage: UNK, DOSAGE FORM: NOT SPECIFIED
     Route: 065
  264. PERIOGARD [Suspect]
     Active Substance: CHLORHEXIDINE GLUCONATE
     Indication: Product used for unknown indication
     Dosage: UNK(SOLUTION BUCCAL)
     Route: 002
  265. PERIOGARD [Suspect]
     Active Substance: CHLORHEXIDINE GLUCONATE
     Dosage: UNK (SOLUTION BUCCAL)
     Route: 065
  266. PHTHALYLSULFATHIAZOLE [Suspect]
     Active Substance: PHTHALYLSULFATHIAZOLE
     Indication: Rheumatoid arthritis
     Dosage: 500 MILLIGRAM
     Route: 048
  267. PHTHALYLSULFATHIAZOLE [Suspect]
     Active Substance: PHTHALYLSULFATHIAZOLE
     Indication: Product used for unknown indication
     Dosage: UNK
     Route: 048
  268. PHTHALYLSULFATHIAZOLE [Suspect]
     Active Substance: PHTHALYLSULFATHIAZOLE
     Dosage: 2000 MILLIGRAM, QD; 1 EVERY1 DAYS
     Route: 065
  269. PHTHALYLSULFATHIAZOLE [Suspect]
     Active Substance: PHTHALYLSULFATHIAZOLE
     Dosage: UNK
     Route: 048
  270. PHTHALYLSULFATHIAZOLE [Suspect]
     Active Substance: PHTHALYLSULFATHIAZOLE
     Dosage: UNK
     Route: 048
  271. PHTHALYLSULFATHIAZOLE [Suspect]
     Active Substance: PHTHALYLSULFATHIAZOLE
     Dosage: 500 MILLIGRAM
     Route: 065
  272. PHTHALYLSULFATHIAZOLE [Suspect]
     Active Substance: PHTHALYLSULFATHIAZOLE
     Dosage: 2000 MILLIGRAM,  1 EVERY 1DAYS
     Route: 048
  273. PHTHALYLSULFATHIAZOLE [Suspect]
     Active Substance: PHTHALYLSULFATHIAZOLE
     Dosage: UNK
     Route: 065
  274. PHTHALYLSULFATHIAZOLE [Suspect]
     Active Substance: PHTHALYLSULFATHIAZOLE
     Dosage: UNK
     Route: 065
  275. PHTHALYLSULFATHIAZOLE [Suspect]
     Active Substance: PHTHALYLSULFATHIAZOLE
     Dosage: UNK
     Route: 065
  276. PHTHALYLSULFATHIAZOLE [Suspect]
     Active Substance: PHTHALYLSULFATHIAZOLE
     Dosage: 1000 MILLIGRAM, 1 EVERY 12 HOURS
     Route: 048
  277. PHTHALYLSULFATHIAZOLE [Suspect]
     Active Substance: PHTHALYLSULFATHIAZOLE
     Dosage: 1000 MILLIGRAM
     Route: 048
  278. PHTHALYLSULFATHIAZOLE [Suspect]
     Active Substance: PHTHALYLSULFATHIAZOLE
     Dosage: 500 MILLIGRAM
     Route: 048
  279. PHTHALYLSULFATHIAZOLE [Suspect]
     Active Substance: PHTHALYLSULFATHIAZOLE
     Dosage: 1000 MILLIGRAM,2 EVERY 1 DAYS
     Route: 048
  280. PHTHALYLSULFATHIAZOLE [Suspect]
     Active Substance: PHTHALYLSULFATHIAZOLE
     Dosage: 2000 MILLIGRAM
     Route: 048
  281. PHTHALYLSULFATHIAZOLE [Suspect]
     Active Substance: PHTHALYLSULFATHIAZOLE
     Dosage: 400 MILLIGRAM
     Route: 065
  282. PHTHALYLSULFATHIAZOLE [Suspect]
     Active Substance: PHTHALYLSULFATHIAZOLE
     Dosage: 1000 MILLIGRAM, 1 EVERY 5 DAYS
     Route: 048
  283. PREDNISOLONE [Suspect]
     Active Substance: PREDNISOLONE
     Indication: Product used for unknown indication
     Dosage: UNK, DOSAGE FORM: NOT SPECIFIED
     Route: 065
  284. PREDNISONE [Suspect]
     Active Substance: PREDNISONE
     Indication: Product used for unknown indication
     Dosage: UNK,DOSAGE FORM NOT SPECIFIED
     Route: 048
  285. PREDNISONE [Suspect]
     Active Substance: PREDNISONE
     Indication: Rheumatoid arthritis
     Dosage: UNK,(DOSAGE FORM:NOT SPECIFIED)
     Route: 048
  286. PREDNISONE [Suspect]
     Active Substance: PREDNISONE
     Indication: Condition aggravated
     Dosage: 7.5 MILLIGRAM, 1 EVERY 1 DAYS
     Route: 048
  287. PREDNISONE [Suspect]
     Active Substance: PREDNISONE
     Dosage: UNK,DOSAGE FORM: NOT SPECIFIED
     Route: 048
  288. PREDNISONE [Suspect]
     Active Substance: PREDNISONE
     Dosage: 7.5 MILLIGRAM, DOSAGE FORM: NOT SPECIFIED
     Route: 048
  289. PREDNISONE [Suspect]
     Active Substance: PREDNISONE
     Dosage: UNK, DOSAGE FORM: NOT SPECIFIED, ROUTE: INTRAVENOUS (NOT OTHERWISE SPECIFIED)
     Route: 042
  290. PREDNISONE [Suspect]
     Active Substance: PREDNISONE
     Dosage: UNK
     Route: 042
  291. PREDNISONE [Suspect]
     Active Substance: PREDNISONE
     Dosage: UNK,(DOSAGE FORM:NOT SPECIFIED)
     Route: 065
  292. PREDNISONE [Suspect]
     Active Substance: PREDNISONE
     Dosage: 1 MILLIGRAM; DOSAGE FORM: NOT SPECIFEID
     Route: 065
  293. PREDNISONE [Suspect]
     Active Substance: PREDNISONE
     Dosage: 365 DOSAGE FORM; DOSAGE FORM: NOT SPECIFEID
     Route: 048
  294. PREDNISONE [Suspect]
     Active Substance: PREDNISONE
     Dosage: 5 MILLIGRAM; DOSAGE FORM: NOT SPECIFEID
     Route: 065
  295. PREDNISONE [Suspect]
     Active Substance: PREDNISONE
     Dosage: 200 MILLIGRAM
     Route: 048
  296. PSEUDOEPHEDRINE HYDROCHLORIDE [Suspect]
     Active Substance: PSEUDOEPHEDRINE HYDROCHLORIDE
     Indication: Product used for unknown indication
     Dosage: UNK,DOSAGEFORM:NOT SPECIFIED
     Route: 065
  297. PSEUDOEPHEDRINE HYDROCHLORIDE [Suspect]
     Active Substance: PSEUDOEPHEDRINE HYDROCHLORIDE
     Indication: Rheumatoid arthritis
     Dosage: UNK,(DOSAGE FORM:NOT SPECIFIED)
     Route: 065
  298. PSEUDOEPHEDRINE HYDROCHLORIDE [Suspect]
     Active Substance: PSEUDOEPHEDRINE HYDROCHLORIDE
     Dosage: 10 MILLIGRAM; DOSAGE FORM: NOT SPECIFIED
     Route: 065
  299. PSEUDOEPHEDRINE HYDROCHLORIDE [Suspect]
     Active Substance: PSEUDOEPHEDRINE HYDROCHLORIDE
     Dosage: UNK,(DOSAGE FORM:NOT SPECIFIED)
     Route: 065
  300. PSEUDOEPHEDRINE HYDROCHLORIDE [Suspect]
     Active Substance: PSEUDOEPHEDRINE HYDROCHLORIDE
     Dosage: 10 MILLIGRAM, 1 EVERY 1 DAYS
     Route: 065
  301. PSEUDOEPHEDRINE HYDROCHLORIDE [Suspect]
     Active Substance: PSEUDOEPHEDRINE HYDROCHLORIDE
     Dosage: 75 MILLIGRAM
     Route: 065
  302. CETIRIZINE HYDROCHLORIDE\PSEUDOEPHEDRINE HYDROCHLORIDE [Suspect]
     Active Substance: CETIRIZINE HYDROCHLORIDE\PSEUDOEPHEDRINE HYDROCHLORIDE
     Indication: Product used for unknown indication
     Dosage: 10 MILLIGRAM
     Route: 065
  303. CETIRIZINE HYDROCHLORIDE\PSEUDOEPHEDRINE HYDROCHLORIDE [Suspect]
     Active Substance: CETIRIZINE HYDROCHLORIDE\PSEUDOEPHEDRINE HYDROCHLORIDE
     Indication: Rheumatoid arthritis
     Dosage: 10 MILLIGRAM
     Route: 005
  304. CETIRIZINE HYDROCHLORIDE\PSEUDOEPHEDRINE HYDROCHLORIDE [Suspect]
     Active Substance: CETIRIZINE HYDROCHLORIDE\PSEUDOEPHEDRINE HYDROCHLORIDE
     Dosage: 10 MILLIGRAM
     Route: 065
  305. CETIRIZINE HYDROCHLORIDE\PSEUDOEPHEDRINE HYDROCHLORIDE [Suspect]
     Active Substance: CETIRIZINE HYDROCHLORIDE\PSEUDOEPHEDRINE HYDROCHLORIDE
     Dosage: UNK,DOSAGE FORM NOT SPECIFIED
     Route: 065
  306. CETIRIZINE HYDROCHLORIDE\PSEUDOEPHEDRINE HYDROCHLORIDE [Suspect]
     Active Substance: CETIRIZINE HYDROCHLORIDE\PSEUDOEPHEDRINE HYDROCHLORIDE
     Dosage: UNK,DOSAGE FORM NOT SPECIFIED
     Route: 005
  307. CETIRIZINE HYDROCHLORIDE\PSEUDOEPHEDRINE HYDROCHLORIDE [Suspect]
     Active Substance: CETIRIZINE HYDROCHLORIDE\PSEUDOEPHEDRINE HYDROCHLORIDE
     Dosage: 20 MILLIGRAM
     Route: 065
  308. RITUXIMAB [Suspect]
     Active Substance: RITUXIMAB
     Indication: Rheumatoid arthritis
     Dosage: UNK, DOSAGE FORM: NOT SPECIFIED, ROUTE: (INTRAVENOUS (NOT OTHERWISE SPECIFIED)
     Route: 042
  309. RITUXIMAB [Suspect]
     Active Substance: RITUXIMAB
     Indication: Product used for unknown indication
     Dosage: UNK,DOSAGE FORM: NOT SPECIFIED
     Route: 058
  310. RITUXIMAB [Suspect]
     Active Substance: RITUXIMAB
     Dosage: UNK,DOSAGE FORM: CONCENTRATE FOR SOLUTION FOR INFUSION
     Route: 042
  311. RITUXIMAB [Suspect]
     Active Substance: RITUXIMAB
     Dosage: UNK
     Route: 041
  312. RITUXIMAB [Suspect]
     Active Substance: RITUXIMAB
     Dosage: UNK, ROUTE: (INTRAVENOUS (NOT OTHERWISE SPECIFIED)
     Route: 042
  313. RITUXIMAB [Suspect]
     Active Substance: RITUXIMAB
     Dosage: UNK,INTRAVENOUS(NOT OTHERWISE SPECIFIED)
     Route: 042
  314. RITUXIMAB [Suspect]
     Active Substance: RITUXIMAB
     Dosage: UNK,INTRAVENOUS(NOT OTHERWISE SPCIFIED)
     Route: 042
  315. RITUXIMAB [Suspect]
     Active Substance: RITUXIMAB
     Dosage: UNK,INTRAVENOUS(NOT OTHERWISE SPECIFIED)
     Route: 042
  316. RITUXIMAB [Suspect]
     Active Substance: RITUXIMAB
     Dosage: 365 MILLIGRAM
     Route: 065
  317. RITUXIMAB [Suspect]
     Active Substance: RITUXIMAB
     Dosage: UNK
     Route: 065
  318. RITUXIMAB [Suspect]
     Active Substance: RITUXIMAB
     Dosage: UNK
     Route: 065
  319. STELARA [Suspect]
     Active Substance: USTEKINUMAB
     Indication: Product used for unknown indication
     Dosage: UNK, DOSAGE FORM: SOLUTION SUBCUTANEOUS
     Route: 058
  320. STELARA [Suspect]
     Active Substance: USTEKINUMAB
     Dosage: UNK,DOSAGE FORM: SOLUTION SUBCUTANEOUS
     Route: 065
  321. STELARA [Suspect]
     Active Substance: USTEKINUMAB
     Dosage: 45 MILLIGRAM
     Route: 058
  322. STELARA [Suspect]
     Active Substance: USTEKINUMAB
     Dosage: 45 MILLIGRAM (DOSAGE FORM: SOLUTION SUBCUTANEOUS)
     Route: 042
  323. SULFAMETHOXAZOLE [Suspect]
     Active Substance: SULFAMETHOXAZOLE
     Indication: Product used for unknown indication
     Dosage: UNK, DOSAGE FORM: NOT SPECIFIED
     Route: 065
  324. SULFAMETHOXAZOLE [Suspect]
     Active Substance: SULFAMETHOXAZOLE
     Indication: Rheumatoid arthritis
     Dosage: UNK
     Route: 065
  325. SULFAMETHOXAZOLE [Suspect]
     Active Substance: SULFAMETHOXAZOLE
     Dosage: UNK
     Route: 067
  326. SULFAMETHOXAZOLE [Suspect]
     Active Substance: SULFAMETHOXAZOLE
     Dosage: 500 MILLIGRAM,SPARY(NOT INHALATION)
     Route: 065
  327. SULFAMETHOXAZOLE [Suspect]
     Active Substance: SULFAMETHOXAZOLE
     Dosage: UNK,SPARY(NOT INHALATION)
     Route: 048
  328. SULFAMETHOXAZOLE [Suspect]
     Active Substance: SULFAMETHOXAZOLE
     Dosage: 2000 MILLIGRAM,SPARY(NOT INHALATION)
     Route: 048
  329. SULFASALAZINE [Suspect]
     Active Substance: SULFASALAZINE
     Indication: Rheumatoid arthritis
     Dosage: 1000 MILLIGRAM,(DOSAGE FORM:NOT SPECIFIED)
     Route: 048
  330. SULFASALAZINE [Suspect]
     Active Substance: SULFASALAZINE
     Indication: Product used for unknown indication
     Dosage: UNK,DOSAGE FORM NOT SPECIFIED
     Route: 048
  331. SULFASALAZINE [Suspect]
     Active Substance: SULFASALAZINE
     Dosage: 1000 MILLIGRAM, 2 EVERY 1 DAYS, DOSAGE FORM NOT SPECIFIED
     Route: 048
  332. SULFASALAZINE [Suspect]
     Active Substance: SULFASALAZINE
     Dosage: 2000 MILLIGRAM, 1 EVERY 1 DAYS,DOSAGE FORM NOT SPECIFIED
     Route: 048
  333. SULFASALAZINE [Suspect]
     Active Substance: SULFASALAZINE
     Dosage: 2 GRAM,(DOSAGE FORM:NOT SPECIFIED)
     Route: 048
  334. SULFASALAZINE [Suspect]
     Active Substance: SULFASALAZINE
     Dosage: 500 MILLIGRAM,(DOSAGE FORM:NOT SPECIFIED)
     Route: 048
  335. SULFASALAZINE [Suspect]
     Active Substance: SULFASALAZINE
     Dosage: DOSAGE FORM: NOT SPECIFIED
     Route: 065
  336. SULFASALAZINE [Suspect]
     Active Substance: SULFASALAZINE
     Dosage: UNK
     Route: 065
  337. SULFASALAZINE [Suspect]
     Active Substance: SULFASALAZINE
     Dosage: UNK, BID
     Route: 048
  338. SULFASALAZINE [Suspect]
     Active Substance: SULFASALAZINE
     Dosage: 500 MILLIGRAM,DOSAGE FORM NOT SPECIFIED
     Route: 048
  339. SULFASALAZINE [Suspect]
     Active Substance: SULFASALAZINE
     Dosage: 2000 MILLIGRAM,(DOSAGE FORM:NOT SPECIFIED)
     Route: 048
  340. SULFASALAZINE [Suspect]
     Active Substance: SULFASALAZINE
     Dosage: 2000 MILLIGRAM
     Route: 048
  341. SULFASALAZINE [Suspect]
     Active Substance: SULFASALAZINE
     Dosage: 500 MILLIGRAM
     Route: 058
  342. SULFASALAZINE [Suspect]
     Active Substance: SULFASALAZINE
     Dosage: 1000 MILLIGRAM, 1 EVERY 12 HOURS
     Route: 065
  343. SULFASALAZINE [Suspect]
     Active Substance: SULFASALAZINE
     Dosage: 4000 MILLIGRAM
     Route: 048
  344. SULFASALAZINE [Suspect]
     Active Substance: SULFASALAZINE
     Dosage: 2000 MILLIGRAM,DOSAGE FORM NOT SPECIFIED
     Route: 048
  345. SULFASALAZINE [Suspect]
     Active Substance: SULFASALAZINE
     Dosage: 365 DOSAGE FORM, DOSAGE FORM NOT SPECIFIED
     Route: 065
  346. SULFASALAZINE [Suspect]
     Active Substance: SULFASALAZINE
     Dosage: 4000 MILLIGRAM, 1 EVERY 1 DAYS
     Route: 065
  347. SULFASALAZINE [Suspect]
     Active Substance: SULFASALAZINE
     Dosage: 400 MILLIGRAM
     Route: 048
  348. SULFASALAZINE [Suspect]
     Active Substance: SULFASALAZINE
     Dosage: 1 GRAM,(DOSAGE FORM:NOT SPECIFIED)
     Route: 065
  349. TOFACITINIB [Suspect]
     Active Substance: TOFACITINIB
     Indication: Rheumatoid arthritis
     Dosage: UNK
     Route: 065
  350. TOFACITINIB [Suspect]
     Active Substance: TOFACITINIB
     Indication: Product used for unknown indication
     Dosage: 5 MILLIGRAM, 1 EVERY 12 HOURS
     Route: 065
  351. TOFACITINIB [Suspect]
     Active Substance: TOFACITINIB
     Dosage: 5 MILLIGRAM, 1 EVERY 12 HOURS
     Route: 065
  352. TOFACITINIB CITRATE [Suspect]
     Active Substance: TOFACITINIB CITRATE
     Indication: Rheumatoid arthritis
     Dosage: 10 MILLIGRAM, 1 EVERY 1 DAYS
     Route: 065
  353. TOFACITINIB CITRATE [Suspect]
     Active Substance: TOFACITINIB CITRATE
     Indication: Product used for unknown indication
     Dosage: UNK
     Route: 065
  354. TOFACITINIB CITRATE [Suspect]
     Active Substance: TOFACITINIB CITRATE
     Dosage: 5 MILLIGRAM
     Route: 065
  355. TOCILIZUMAB [Suspect]
     Active Substance: TOCILIZUMAB
     Indication: Rheumatoid arthritis
     Dosage: UNK
     Route: 042
  356. SULFAMETHOXAZOLE\TRIMETHOPRIM [Suspect]
     Active Substance: SULFAMETHOXAZOLE\TRIMETHOPRIM
     Indication: Product used for unknown indication
     Dosage: UNK: DOSAGE FORM: NOT SPECIFIED
     Route: 065
  357. SULFAMETHOXAZOLE\TRIMETHOPRIM [Suspect]
     Active Substance: SULFAMETHOXAZOLE\TRIMETHOPRIM
     Dosage: UNK,(DOSAGE FORM:NOT SPECIFIED)
     Route: 067
  358. XELJANZ [Suspect]
     Active Substance: TOFACITINIB CITRATE
     Indication: Rheumatoid arthritis
     Dosage: 10 MILLIGRAM, DOSAGE FORM: NOT SPECIFIED
     Route: 048
  359. XELJANZ [Suspect]
     Active Substance: TOFACITINIB CITRATE
     Indication: Product used for unknown indication
     Dosage: 5 MILLIGRAM,(DOSAGE FORM:NOT SPECIFIED)
     Route: 065
  360. XELJANZ [Suspect]
     Active Substance: TOFACITINIB CITRATE
     Dosage: 10 MILLIGRAM, 1 EVERY 1 DAY,(DOSAGE FORM:NOT SPECIFIED)
     Route: 065
  361. XELJANZ [Suspect]
     Active Substance: TOFACITINIB CITRATE
     Dosage: 10 MILLIGRAM, DOSAGE FORM: (DOSAGE FORM: NOT SPECIFIED)
     Route: 065
  362. XELJANZ [Suspect]
     Active Substance: TOFACITINIB CITRATE
     Dosage: 5 MILLIGRAM,(DOSAGE FORM:NOT SPECIFIED)
     Route: 065
  363. XELJANZ [Suspect]
     Active Substance: TOFACITINIB CITRATE
     Dosage: 5 MILLIGRAM
     Route: 065
  364. XELJANZ [Suspect]
     Active Substance: TOFACITINIB CITRATE
     Dosage: UNK,(DOSAGE FORM:NOT SPECIFIED)
     Route: 065
  365. XELJANZ [Suspect]
     Active Substance: TOFACITINIB CITRATE
     Dosage: 5 MILLIGRAM,2 EVERY 1 DAYS, DOSAGE FORM: NOT SPECIFIED
     Route: 065
  366. XELJANZ [Suspect]
     Active Substance: TOFACITINIB CITRATE
     Dosage: 5 MILLIGRAM, 1 EVERY 5 DAYS
     Route: 065
  367. XELJANZ [Suspect]
     Active Substance: TOFACITINIB CITRATE
     Dosage: UNK,(DOSAGE FORM:NOT SPECIFIED)
     Route: 065
  368. CETIRIZINE HYDROCHLORIDE [Suspect]
     Active Substance: CETIRIZINE HYDROCHLORIDE
     Indication: Rheumatoid arthritis
     Dosage: 10 MILLIGRAM
     Route: 065
  369. CETIRIZINE HYDROCHLORIDE [Suspect]
     Active Substance: CETIRIZINE HYDROCHLORIDE
     Indication: Product used for unknown indication
     Dosage: 10 MILLIGRAM,(DOSAGE FORM:NOT SPECIFIED)
     Route: 016
  370. CETIRIZINE HYDROCHLORIDE [Suspect]
     Active Substance: CETIRIZINE HYDROCHLORIDE
     Dosage: 10 MILLIGRAM,(DOSAGE FORM:NOT SPECIFIED)
     Route: 065
  371. CETIRIZINE HYDROCHLORIDE [Suspect]
     Active Substance: CETIRIZINE HYDROCHLORIDE
     Dosage: 10 MILLIGRAM
     Route: 065
  372. CETIRIZINE HYDROCHLORIDE [Suspect]
     Active Substance: CETIRIZINE HYDROCHLORIDE
     Dosage: UNK,(DOSAGE FORM:NOT SPECIFIED)
     Route: 065
  373. CETIRIZINE HYDROCHLORIDE [Suspect]
     Active Substance: CETIRIZINE HYDROCHLORIDE
     Dosage: UNK
     Route: 065
  374. CETIRIZINE HYDROCHLORIDE [Suspect]
     Active Substance: CETIRIZINE HYDROCHLORIDE
     Dosage: UNK
     Route: 065
  375. CETIRIZINE HYDROCHLORIDE [Suspect]
     Active Substance: CETIRIZINE HYDROCHLORIDE
     Dosage: UNK
     Route: 065
  376. CHLORAPREP ONE-STEP [Suspect]
     Active Substance: CHLORHEXIDINE GLUCONATE\ISOPROPYL ALCOHOL
     Indication: Product used for unknown indication
     Dosage: UNK
     Route: 065
  377. ACETAMINOPHEN [Suspect]
     Active Substance: ACETAMINOPHEN
     Indication: Product used for unknown indication
     Dosage: UNK
     Route: 048
  378. ACETAMINOPHEN [Suspect]
     Active Substance: ACETAMINOPHEN
     Dosage: UNK
     Route: 065
  379. ACETAMINOPHEN [Suspect]
     Active Substance: ACETAMINOPHEN
     Dosage: UNK
     Route: 065
  380. ACETAMINOPHEN [Suspect]
     Active Substance: ACETAMINOPHEN
     Dosage: UNK
     Route: 065
  381. DICLOFENAC SODIUM [Suspect]
     Active Substance: DICLOFENAC\DICLOFENAC SODIUM
     Indication: Product used for unknown indication
     Dosage: UNK
     Route: 065
  382. DICLOFENAC SODIUM [Suspect]
     Active Substance: DICLOFENAC\DICLOFENAC SODIUM
     Indication: Rheumatoid arthritis
     Dosage: UNK,DOSAGEFORM:NOT SPECIFIED
     Route: 065
  383. DICLOFENAC SODIUM [Suspect]
     Active Substance: DICLOFENAC\DICLOFENAC SODIUM
     Dosage: UNK,DOSAGEFORM:NOT SPECIFIED
     Route: 047
  384. DICLOFENAC SODIUM [Suspect]
     Active Substance: DICLOFENAC\DICLOFENAC SODIUM
     Dosage: UNK,(DOSAGE FORM:NOT SPECIFIED)
     Route: 058
  385. DICLOFENAC SODIUM [Suspect]
     Active Substance: DICLOFENAC\DICLOFENAC SODIUM
     Dosage: 50 MILLIGRAM (DOSAGE FORM: NOT SPECIFIED)
     Route: 047
  386. HYDROXYCHLOROQUINE [Suspect]
     Active Substance: HYDROXYCHLOROQUINE
     Indication: Rheumatoid arthritis
     Dosage: UNK
     Route: 065
  387. HYDROXYCHLOROQUINE [Suspect]
     Active Substance: HYDROXYCHLOROQUINE
     Dosage: 400 MILLIGRAM,DOSAGE FORM:NOT SPECIFIED
     Route: 048
  388. HYDROXYCHLOROQUINE [Suspect]
     Active Substance: HYDROXYCHLOROQUINE
     Dosage: UNK  (DOSAGE FORM: NOT SPECIFIED)
     Route: 048
  389. HYDROXYCHLOROQUINE [Suspect]
     Active Substance: HYDROXYCHLOROQUINE
     Dosage: 400 MILLIGRAM, 1 EVERY 1 DAYS,DOSAGE FORM NOT SPECIFIED
     Route: 065
  390. HYDROXYCHLOROQUINE [Suspect]
     Active Substance: HYDROXYCHLOROQUINE
     Dosage: UNK,DOSAGE FORM NOT SPECIFIED
     Route: 065
  391. HYDROXYCHLOROQUINE [Suspect]
     Active Substance: HYDROXYCHLOROQUINE
     Dosage: 500 MILLIGRAM,1 EVERY 1 DAYS
     Route: 048
  392. ISOPROPYL ALCOHOL [Suspect]
     Active Substance: ISOPROPYL ALCOHOL
     Indication: Product used for unknown indication
     Dosage: UNK; DOSAGE FORM:LIQUID TOPICAL
     Route: 065
  393. ACETAMINOPHEN\CAFFEINE [Suspect]
     Active Substance: ACETAMINOPHEN\CAFFEINE
     Indication: Product used for unknown indication
     Dosage: UNK
     Route: 065
  394. CETRIMIDE [Suspect]
     Active Substance: CETRIMIDE
     Indication: Product used for unknown indication
     Dosage: UNK
     Route: 065
  395. CLIOQUINOL\FLUMETHASONE PIVALATE [Suspect]
     Active Substance: CLIOQUINOL\FLUMETHASONE PIVALATE
     Dosage: UNK
     Route: 065
  396. ACTIFED (PSEUDOEPHEDRINE HYDROCHLORIDE\TRIPROLIDINE HYDROCHLORIDE) [Suspect]
     Active Substance: PSEUDOEPHEDRINE HYDROCHLORIDE\TRIPROLIDINE HYDROCHLORIDE
     Indication: Product used for unknown indication
     Dosage: UNK
     Route: 065
  397. AZULFIDINE [Suspect]
     Active Substance: SULFASALAZINE
     Indication: Product used for unknown indication
     Dosage: 1000 MILLIGRAM
     Route: 065
  398. VITAMIN D3 [Suspect]
     Active Substance: CHOLECALCIFEROL
     Indication: Product used for unknown indication
     Dosage: UNK
     Route: 065
  399. VITAMIN D3 [Suspect]
     Active Substance: CHOLECALCIFEROL
     Dosage: UNK (DOSAGE FORM : NOT SPECIFIED)
     Route: 016
  400. DICLOFENAC POTASSIUM [Suspect]
     Active Substance: DICLOFENAC POTASSIUM
     Indication: Rheumatoid arthritis
     Dosage: UNK
     Route: 048
  401. HYDROCORTISONE ACETATE [Suspect]
     Active Substance: HYDROCORTISONE ACETATE
     Indication: Rheumatoid arthritis
     Dosage: UNK (DOSAGE FORM : NOT SPECIFIED)
     Route: 065
  402. HYDROCORTISONE ACETATE [Suspect]
     Active Substance: HYDROCORTISONE ACETATE
     Indication: Product used for unknown indication
     Dosage: UNK
     Route: 061
  403. HYDROCORTISONE ACETATE [Suspect]
     Active Substance: HYDROCORTISONE ACETATE
     Dosage: UNK
     Route: 061
  404. HYDROCORTISONE ACETATE [Suspect]
     Active Substance: HYDROCORTISONE ACETATE
     Dosage: UNK
     Route: 061
  405. HYDROCORTISONE ACETATE [Suspect]
     Active Substance: HYDROCORTISONE ACETATE
     Dosage: UNK,(DOSAGE FORM:NOT SPECIFIED)
     Route: 058
  406. HYDROCORTISONE ACETATE [Suspect]
     Active Substance: HYDROCORTISONE ACETATE
     Dosage: UNK,(DOSAGE FORM:NOT SPECIFIED)
     Route: 048
  407. HYDROCORTISONE SODIUM SUCCINATE [Suspect]
     Active Substance: HYDROCORTISONE SODIUM SUCCINATE
     Indication: Rheumatoid arthritis
     Dosage: UNK
     Route: 065
  408. HYDROCORTISONE SODIUM SUCCINATE [Suspect]
     Active Substance: HYDROCORTISONE SODIUM SUCCINATE
     Dosage: UNK
     Route: 048
  409. INDOMETHACIN [Suspect]
     Active Substance: INDOMETHACIN
     Indication: Product used for unknown indication
     Dosage: UNK
     Route: 065
  410. KEVZARA [Suspect]
     Active Substance: SARILUMAB
     Indication: Rheumatoid arthritis
     Dosage: UNK
     Route: 065
  411. NAPROXEN SODIUM [Suspect]
     Active Substance: NAPROXEN SODIUM
     Indication: Rheumatoid arthritis
     Dosage: 500 MILLIGRAM,  2 EVERY 1 DAYS (DOSAGE FORM: NOT SPECIFIED)
     Route: 065
  412. NAPROXEN SODIUM [Suspect]
     Active Substance: NAPROXEN SODIUM
     Dosage: 500 MILLIGRAM,(DOSAGE FORM:NOT SPECIFIED)
     Route: 065
  413. ABATACEPT [Suspect]
     Active Substance: ABATACEPT
     Indication: Rheumatoid arthritis
     Dosage: UNK
     Route: 042
  414. ABATACEPT [Suspect]
     Active Substance: ABATACEPT
     Indication: Product used for unknown indication
     Dosage: UNK
     Route: 058
  415. ABATACEPT [Suspect]
     Active Substance: ABATACEPT
     Dosage: 365 DOSAGE FORM
     Route: 042
  416. CETIRIZINE HYDROCHLORIDE [Suspect]
     Active Substance: CETIRIZINE HYDROCHLORIDE
     Indication: Rheumatoid arthritis
     Dosage: 10 MILLIGRAM
     Route: 065
  417. CETIRIZINE HYDROCHLORIDE [Suspect]
     Active Substance: CETIRIZINE HYDROCHLORIDE
     Indication: Product used for unknown indication
     Dosage: 10 MILLIGRAM
     Route: 065
  418. CETIRIZINE HYDROCHLORIDE [Suspect]
     Active Substance: CETIRIZINE HYDROCHLORIDE
     Dosage: 10 MILLIGRAM
     Route: 065
  419. CETIRIZINE HYDROCHLORIDE [Suspect]
     Active Substance: CETIRIZINE HYDROCHLORIDE
     Dosage: UNK
     Route: 065
  420. CETIRIZINE HYDROCHLORIDE [Suspect]
     Active Substance: CETIRIZINE HYDROCHLORIDE
     Dosage: 10 MILLIGRAM
     Route: 048
  421. CETIRIZINE HYDROCHLORIDE [Suspect]
     Active Substance: CETIRIZINE HYDROCHLORIDE
     Dosage: UNK
     Route: 048
  422. CETIRIZINE HYDROCHLORIDE [Suspect]
     Active Substance: CETIRIZINE HYDROCHLORIDE
     Dosage: 25 MILLIGRAM
     Route: 048
  423. CETIRIZINE HYDROCHLORIDE [Suspect]
     Active Substance: CETIRIZINE HYDROCHLORIDE
     Dosage: 20 MILLIGRAM
     Route: 065
  424. CETIRIZINE HYDROCHLORIDE [Suspect]
     Active Substance: CETIRIZINE HYDROCHLORIDE
     Dosage: UNK
  425. CORTISONE [Suspect]
     Active Substance: CORTISONE
     Indication: Rheumatoid arthritis
     Dosage: 25 MILLIGRAM
     Route: 058
  426. CORTISONE [Suspect]
     Active Substance: CORTISONE
     Dosage: UNK (DOSAGE FORM : NOT SPECIFIED)
     Route: 061
  427. OXYCODONE AND ACETAMINOPHEN [Suspect]
     Active Substance: ACETAMINOPHEN\OXYCODONE HYDROCHLORIDE
     Indication: Product used for unknown indication
     Dosage: UNK
     Route: 065
  428. RITUXAN [Suspect]
     Active Substance: RITUXIMAB
     Indication: Rheumatoid arthritis
     Dosage: UNK,SOLUTION INTRAVENOUS
     Route: 042
  429. RITUXAN [Suspect]
     Active Substance: RITUXIMAB
     Dosage: UNK
     Route: 042
  430. HYDROCORTISONE ACETATE [Suspect]
     Active Substance: HYDROCORTISONE ACETATE
     Indication: Rheumatoid arthritis
     Dosage: UNK,DOSAGE FORM NOT SPECIFIED
     Route: 065
  431. HYDROCORTISONE ACETATE [Suspect]
     Active Substance: HYDROCORTISONE ACETATE
     Indication: Product used for unknown indication
     Dosage: UNK,DOSAGE FORM NOT SPECIFIED
     Route: 003
  432. ACETAMINOPHEN [Suspect]
     Active Substance: ACETAMINOPHEN
     Dosage: DOSAGE FORM NOT SPECIFIED
     Route: 065
  433. PLAQUENIL [Suspect]
     Active Substance: HYDROXYCHLOROQUINE SULFATE
     Indication: Rheumatoid arthritis
     Dosage: 400 MILLIGRAM
     Route: 048
  434. PLAQUENIL [Suspect]
     Active Substance: HYDROXYCHLOROQUINE SULFATE
     Indication: Product used for unknown indication
     Dosage: UNK
     Route: 065
  435. PLAQUENIL [Suspect]
     Active Substance: HYDROXYCHLOROQUINE SULFATE
     Dosage: UNK
     Route: 065
  436. PLAQUENIL [Suspect]
     Active Substance: HYDROXYCHLOROQUINE SULFATE
     Dosage: 400 MILLIGRAM, 1 EVERY ONE DAY
     Route: 048
  437. PLAQUENIL [Suspect]
     Active Substance: HYDROXYCHLOROQUINE SULFATE
     Dosage: 400 MILLIGRAM
     Route: 048
  438. ALENDRONATE SODIUM\CHOLECALCIFEROL [Suspect]
     Active Substance: ALENDRONATE SODIUM\CHOLECALCIFEROL
     Indication: Rheumatoid arthritis
     Dosage: UNK
     Route: 048
  439. ALENDRONATE SODIUM\CHOLECALCIFEROL [Suspect]
     Active Substance: ALENDRONATE SODIUM\CHOLECALCIFEROL
     Indication: Product used for unknown indication
     Dosage: UNK
     Route: 065
  440. CHLORHEXIDINE GLUCONATE\ISOPROPYL ALCOHOL [Suspect]
     Active Substance: CHLORHEXIDINE GLUCONATE\ISOPROPYL ALCOHOL
     Indication: Product used for unknown indication
     Dosage: UNK, DOSAGE FORM NOT SPECIFIED
     Route: 002
  441. CHLORHEXIDINE GLUCONATE\ISOPROPYL ALCOHOL [Suspect]
     Active Substance: CHLORHEXIDINE GLUCONATE\ISOPROPYL ALCOHOL
     Dosage: UNK,(DOSAGE FORM:NOT SPECIFIED)
     Route: 065
  442. CHLORHEXIDINE GLUCONATE\ISOPROPYL ALCOHOL [Suspect]
     Active Substance: CHLORHEXIDINE GLUCONATE\ISOPROPYL ALCOHOL
     Dosage: UNK,(DOSAGE FORM:NOT SPECIFIED)
     Route: 065
  443. CHLORHEXIDINE GLUCONATE\ISOPROPYL ALCOHOL [Suspect]
     Active Substance: CHLORHEXIDINE GLUCONATE\ISOPROPYL ALCOHOL
     Dosage: UNK,(DOSAGE FORM:NOT SPECIFIED)
     Route: 061
  444. CHLORHEXIDINE GLUCONATE\ISOPROPYL ALCOHOL [Suspect]
     Active Substance: CHLORHEXIDINE GLUCONATE\ISOPROPYL ALCOHOL
     Dosage: UNK,(DOSAGE FORM:NOT SPECIFIED)
     Route: 048
  445. CHLORHEXIDINE GLUCONATE\ISOPROPYL ALCOHOL [Suspect]
     Active Substance: CHLORHEXIDINE GLUCONATE\ISOPROPYL ALCOHOL
     Dosage: UNK,(DOSAGE FORM:NOT SPECIFIED)
     Route: 065
  446. CODEINE PHOSPHATE [Suspect]
     Active Substance: CODEINE PHOSPHATE
     Indication: Product used for unknown indication
     Dosage: UNK,DOSAGE FORM:NOT SPECIFIED
     Route: 065
  447. ACTEMRA [Suspect]
     Active Substance: TOCILIZUMAB
     Indication: Rheumatoid arthritis
     Dosage: 752.8 MILLIGRAM,1 EVERY 1 WEEKS
     Route: 042
  448. ACTEMRA [Suspect]
     Active Substance: TOCILIZUMAB
     Dosage: UNK
     Route: 042
  449. ACTEMRA [Suspect]
     Active Substance: TOCILIZUMAB
     Dosage: UNK
     Route: 058
  450. ACTEMRA [Suspect]
     Active Substance: TOCILIZUMAB
     Dosage: 2912.0 MILLIGRAM
     Route: 065
  451. ACTEMRA [Suspect]
     Active Substance: TOCILIZUMAB
     Dosage: 752.8 MILLIGRAM,1 EVERY 1 WEEKS
     Route: 065
  452. ACTEMRA [Suspect]
     Active Substance: TOCILIZUMAB
     Dosage: 752 MILLIGRAM,DOSAGE FORM NOT SPECIFIED
     Route: 065
  453. ACTEMRA [Suspect]
     Active Substance: TOCILIZUMAB
     Dosage: 728 MILLIGRAM,1 EVERY 1 WEEKS
     Route: 042
  454. ACTEMRA [Suspect]
     Active Substance: TOCILIZUMAB
     Dosage: 3011.2 MILLIGRAM
     Route: 042
  455. ACTEMRA [Suspect]
     Active Substance: TOCILIZUMAB
     Dosage: 728 MILLIGARM,1 EVERY 1 WEEKS
     Route: 042
  456. ACTEMRA [Suspect]
     Active Substance: TOCILIZUMAB
     Dosage: UNK,DOSAGE FORM NOT SPECIFIED
     Route: 065
  457. ACTEMRA [Suspect]
     Active Substance: TOCILIZUMAB
     Dosage: 728 MILLIGRAM
     Route: 042
  458. ACTEMRA [Suspect]
     Active Substance: TOCILIZUMAB
     Dosage: 752.8 MILLIGRAM
     Route: 042
  459. ACTEMRA [Suspect]
     Active Substance: TOCILIZUMAB
     Dosage: 20 MILLIGRAM
     Route: 048
  460. ACTEMRA [Suspect]
     Active Substance: TOCILIZUMAB
     Dosage: 728 MILLIGRAM
     Route: 065
  461. ACTEMRA [Suspect]
     Active Substance: TOCILIZUMAB
     Dosage: 728 MILLIGRAM
     Route: 042
  462. ACTEMRA [Suspect]
     Active Substance: TOCILIZUMAB
     Dosage: 2912 MILLIGRAM, 1 EVERY 1 WEEKS
     Route: 042
  463. ACTEMRA [Suspect]
     Active Substance: TOCILIZUMAB
     Dosage: 3011.2 MILLIGRAM
     Route: 042
  464. CALCIUM CARBONATE [Suspect]
     Active Substance: CALCIUM CARBONATE
     Indication: Product used for unknown indication
     Dosage: UNK,(DOSAGE FORM:NOT SPECIFIED)
     Route: 065
  465. CALCIUM GLUBIONATE [Suspect]
     Active Substance: CALCIUM GLUBIONATE
     Indication: Product used for unknown indication
     Dosage: UNK,(DOSAGE FORM:NOT SPECIFIED)
     Route: 065
  466. COSENTYX [Suspect]
     Active Substance: SECUKINUMAB
     Indication: Rheumatoid arthritis
     Dosage: UNK
     Route: 005
  467. COSENTYX [Suspect]
     Active Substance: SECUKINUMAB
     Indication: Psoriatic arthropathy
  468. ERELZI [Suspect]
     Active Substance: ETANERCEPT-SZZS
     Indication: Rheumatoid arthritis
     Dosage: UNK,(DOSAGE FORM:NOT SPECIFIED)
     Route: 065
  469. ERELZI [Suspect]
     Active Substance: ETANERCEPT-SZZS
     Indication: Product used for unknown indication
     Dosage: 50 MILLIGRAM, 1 EVERY 1 WEEK, DOSAGE FORM : NOT SPECIFIED
     Route: 058
  470. FLUMETHASONE PIVALATE [Suspect]
     Active Substance: FLUMETHASONE PIVALATE
     Indication: Product used for unknown indication
     Dosage: UNK
     Route: 065
  471. FLUMETHASONE PIVALATE [Suspect]
     Active Substance: FLUMETHASONE PIVALATE
     Dosage: UNK
     Route: 003
  472. VITAMIN C [Suspect]
     Active Substance: ASCORBIC ACID
     Indication: Product used for unknown indication
     Dosage: UNK,(DOSAGE FORM:NOT SPECIFIED)
     Route: 065
  473. ADALIMUMAB [Suspect]
     Active Substance: ADALIMUMAB
     Indication: Product used for unknown indication
     Dosage: 40 MILLIGRAM,(DOSAGE FORM:SOLUTION SUBCUTANEOUS)
     Route: 065
  474. ADALIMUMAB [Suspect]
     Active Substance: ADALIMUMAB
     Indication: Rheumatoid arthritis
     Dosage: 40 MILLIGRAM,(DOSAGE FORM:SOLUTION SUBCUTANEOUS)
     Route: 058
  475. ADALIMUMAB [Suspect]
     Active Substance: ADALIMUMAB
     Dosage: 3011.2 (DOSAGE FORM:SOLUTION SUBCUTANEOUS),INTRAVENOUS(NOT OTHERWISE SPECIFIED)
     Route: 042
  476. ACETAMINOPHEN [Suspect]
     Active Substance: ACETAMINOPHEN
     Dosage: UNK
     Route: 065
  477. SULFASALAZINE [Suspect]
     Active Substance: SULFASALAZINE
     Dosage: UNK,(DOSAGE FORM:NOT SPECIFIED)
     Route: 065
  478. PANTOPRAZOLE SODIUM [Suspect]
     Active Substance: PANTOPRAZOLE SODIUM
     Indication: Product used for unknown indication
     Dosage: UNK,TABLET ENTERIC COATED
     Route: 048
  479. PANTOPRAZOLE SODIUM [Suspect]
     Active Substance: PANTOPRAZOLE SODIUM
     Dosage: UNK, DOSAGE FORM WAS REPORTED AS TABLET ENTERIC COATED
     Route: 065
  480. PANTOPRAZOLE SODIUM [Suspect]
     Active Substance: PANTOPRAZOLE SODIUM
     Dosage: UNK
     Route: 065
  481. PANTOPRAZOLE SODIUM [Suspect]
     Active Substance: PANTOPRAZOLE SODIUM
     Dosage: UNK (DOSAGE FORM : NOT SPECIFIED)
     Route: 016
  482. MARVELON [Concomitant]
     Active Substance: DESOGESTREL\ETHINYL ESTRADIOL
     Indication: Product used for unknown indication
     Dosage: UNK
     Route: 048
  483. MARVELON [Concomitant]
     Active Substance: DESOGESTREL\ETHINYL ESTRADIOL
     Dosage: UNK
     Route: 048
  484. MARVELON [Concomitant]
     Active Substance: DESOGESTREL\ETHINYL ESTRADIOL
     Dosage: UNK
     Route: 065
  485. MARVELON [Concomitant]
     Active Substance: DESOGESTREL\ETHINYL ESTRADIOL
     Dosage: UNK
     Route: 065
  486. MARVELON [Concomitant]
     Active Substance: DESOGESTREL\ETHINYL ESTRADIOL
     Dosage: UNK
     Route: 065
  487. LANSOPRAZOLE [Concomitant]
     Active Substance: LANSOPRAZOLE
     Indication: Product used for unknown indication
     Dosage: UNK
     Route: 065
  488. PANTOPRAZOLE SODIUM [Concomitant]
     Active Substance: PANTOPRAZOLE SODIUM
     Indication: Product used for unknown indication
     Dosage: 7.5 MILLIGRAM
     Route: 048
  489. PANTOPRAZOLE SODIUM [Concomitant]
     Active Substance: PANTOPRAZOLE SODIUM
     Dosage: UNK
     Route: 065
  490. PANTOPRAZOLE SODIUM [Concomitant]
     Active Substance: PANTOPRAZOLE SODIUM
     Dosage: UNK
     Route: 065
  491. PANTOPRAZOLE SODIUM [Concomitant]
     Active Substance: PANTOPRAZOLE SODIUM
     Dosage: 7.5 MILLIGRAM
     Route: 048
  492. PANTOPRAZOLE SODIUM [Concomitant]
     Active Substance: PANTOPRAZOLE SODIUM
     Dosage: UNK
     Route: 065
  493. FISH OIL [Concomitant]
     Active Substance: FISH OIL
     Indication: Product used for unknown indication
     Dosage: UNK,(DOSAGE FORM:NOT SPECIFIED)
     Route: 065
  494. SULFASALAZINE [Concomitant]
     Active Substance: SULFASALAZINE
     Indication: Product used for unknown indication
     Dosage: UNK,DOSAGE FORM NOT SPECIFIED
     Route: 065
  495. TYLENOL [Concomitant]
     Active Substance: ACETAMINOPHEN
     Indication: Product used for unknown indication
     Dosage: UNK, DOSAGE FORM: NOT SPECIFIED
     Route: 065
  496. TYLENOL [Concomitant]
     Active Substance: ACETAMINOPHEN
     Dosage: UNK,(DOSAGE FORM:NOT SPECIFIED)
     Route: 065
  497. VITAMIN C [Concomitant]
     Active Substance: ASCORBIC ACID
     Indication: Product used for unknown indication
     Dosage: UNK, DOSAGE FORM: NOT SPECIFIED
     Route: 065
  498. ZOPICLONE [Concomitant]
     Active Substance: ZOPICLONE
     Indication: Product used for unknown indication
     Dosage: UNK
     Route: 048
  499. ZOPICLONE [Concomitant]
     Active Substance: ZOPICLONE
     Dosage: UNK
     Route: 065
  500. ACETAMINOPHEN [Concomitant]
     Active Substance: ACETAMINOPHEN
     Dosage: UNK,DOSAGE FORM NOT SPECIFIED
     Route: 065
  501. PANTOPRAZOLE SODIUM ANHYDROUS [Concomitant]
     Active Substance: PANTOPRAZOLE SODIUM ANHYDROUS
     Dosage: UNK,DOSAGE FORM: NOT SPECIFIED
     Route: 048
  502. PANTOPRAZOLE SODIUM ANHYDROUS [Concomitant]
     Active Substance: PANTOPRAZOLE SODIUM ANHYDROUS
     Dosage: UNK
     Route: 065
  503. PANTOPRAZOLE SODIUM ANHYDROUS [Concomitant]
     Active Substance: PANTOPRAZOLE SODIUM ANHYDROUS
     Dosage: UNK
     Route: 048
  504. ACETAMINOPHEN [Concomitant]
     Active Substance: ACETAMINOPHEN
     Indication: Product used for unknown indication
     Dosage: UNK, (DOSAGE FORM: NOT SPECIFIED)
     Route: 065
  505. ACETAMINOPHEN [Concomitant]
     Active Substance: ACETAMINOPHEN
     Dosage: UNK
     Route: 065
  506. ATIVAN [Concomitant]
     Active Substance: LORAZEPAM
     Indication: Product used for unknown indication
     Dosage: UNK; DOSAGE FORM: NOT SPECIFIED
     Route: 065
  507. ERGOCALCIFEROL [Concomitant]
     Active Substance: ERGOCALCIFEROL
     Dosage: UNK,(DOSAGE FORM:NOT SPECIFIED)
     Route: 065
  508. GLUCOSAMINE [Concomitant]
     Active Substance: GLUCOSAMINE
     Dosage: UNK,(DOSAGE FORM:NOT SPECIFIED)
     Route: 065
  509. SULFAMETHOXAZOLE AND TRIMETHOPRIM [Concomitant]
     Active Substance: SULFAMETHOXAZOLE\TRIMETHOPRIM
     Indication: Product used for unknown indication
     Dosage: UNK,(DOSAGE FORM:NOT SPECIFIED)
     Route: 065

REACTIONS (158)
  - Abdominal discomfort [Not Recovered/Not Resolved]
  - Alopecia [Not Recovered/Not Resolved]
  - Anti-cyclic citrullinated peptide antibody positive [Not Recovered/Not Resolved]
  - Arthralgia [Not Recovered/Not Resolved]
  - Arthropathy [Not Recovered/Not Resolved]
  - Asthenia [Not Recovered/Not Resolved]
  - Blister [Not Recovered/Not Resolved]
  - Blood cholesterol increased [Not Recovered/Not Resolved]
  - Bursitis [Not Recovered/Not Resolved]
  - C-reactive protein abnormal [Not Recovered/Not Resolved]
  - Chest pain [Not Recovered/Not Resolved]
  - Condition aggravated [Not Recovered/Not Resolved]
  - Confusional state [Not Recovered/Not Resolved]
  - Contraindicated product administered [Fatal]
  - Contusion [Fatal]
  - Discomfort [Fatal]
  - Drug hypersensitivity [Fatal]
  - Drug ineffective [Fatal]
  - Drug intolerance [Fatal]
  - Dry mouth [Fatal]
  - Duodenal ulcer perforation [Fatal]
  - Dyspnoea [Fatal]
  - Facet joint syndrome [Fatal]
  - Fatigue [Fatal]
  - Folliculitis [Fatal]
  - Gastrointestinal disorder [Fatal]
  - General physical health deterioration [Fatal]
  - Glossodynia [Fatal]
  - Hand deformity [Fatal]
  - Headache [Fatal]
  - Helicobacter infection [Fatal]
  - Hepatic enzyme increased [Not Recovered/Not Resolved]
  - Hypersensitivity [Not Recovered/Not Resolved]
  - Hypertension [Fatal]
  - Impaired healing [Fatal]
  - Infection [Fatal]
  - Inflammation [Fatal]
  - Infusion related reaction [Fatal]
  - Injury [Fatal]
  - Insomnia [Not Recovered/Not Resolved]
  - Intentional product use issue [Not Recovered/Not Resolved]
  - Irritable bowel syndrome [Fatal]
  - Joint range of motion decreased [Not Recovered/Not Resolved]
  - Joint swelling [Not Recovered/Not Resolved]
  - Lip dry [Fatal]
  - Liver disorder [Fatal]
  - Lower respiratory tract infection [Fatal]
  - Lung disorder [Fatal]
  - Medication error [Fatal]
  - Muscle injury [Fatal]
  - Muscle spasticity [Not Recovered/Not Resolved]
  - Musculoskeletal pain [Not Recovered/Not Resolved]
  - Musculoskeletal stiffness [Not Recovered/Not Resolved]
  - Nasopharyngitis [Fatal]
  - Night sweats [Fatal]
  - Obesity [Fatal]
  - Oedema [Not Recovered/Not Resolved]
  - Oedema peripheral [Not Recovered/Not Resolved]
  - Off label use [Fatal]
  - Osteoarthritis [Fatal]
  - Pain [Fatal]
  - Pain in extremity [Not Recovered/Not Resolved]
  - Paraesthesia [Fatal]
  - Pemphigus [Not Recovered/Not Resolved]
  - Pericarditis [Fatal]
  - Peripheral swelling [Not Recovered/Not Resolved]
  - Peripheral venous disease [Fatal]
  - Pregnancy [Not Recovered/Not Resolved]
  - Product use in unapproved indication [Fatal]
  - Product use issue [Fatal]
  - Pruritus [Not Recovered/Not Resolved]
  - Pyrexia [Fatal]
  - Rash [Not Recovered/Not Resolved]
  - Rheumatic fever [Fatal]
  - Rheumatoid arthritis [Fatal]
  - Rheumatoid factor positive [Not Recovered/Not Resolved]
  - Sinusitis [Fatal]
  - Sleep disorder [Fatal]
  - Sleep disorder due to general medical condition, insomnia type [Fatal]
  - Stomatitis [Fatal]
  - Swelling [Fatal]
  - Swollen joint count [Fatal]
  - Synovitis [Not Recovered/Not Resolved]
  - Systemic lupus erythematosus [Fatal]
  - Therapeutic product effect decreased [Not Recovered/Not Resolved]
  - Therapy non-responder [Not Recovered/Not Resolved]
  - Treatment failure [Not Recovered/Not Resolved]
  - Type 2 diabetes mellitus [Fatal]
  - Urticaria [Fatal]
  - Weight increased [Not Recovered/Not Resolved]
  - Wound [Fatal]
  - Hip arthroplasty [Fatal]
  - Knee arthroplasty [Fatal]
  - Dyspepsia [Fatal]
  - Maternal exposure during pregnancy [Fatal]
  - Abdominal pain upper [Not Recovered/Not Resolved]
  - Back pain [Not Recovered/Not Resolved]
  - Body temperature increased [Not Recovered/Not Resolved]
  - Diarrhoea [Not Recovered/Not Resolved]
  - Breast cancer stage III [Not Recovered/Not Resolved]
  - Colitis ulcerative [Not Recovered/Not Resolved]
  - X-ray abnormal [Fatal]
  - Muscular weakness [Fatal]
  - Mobility decreased [Not Recovered/Not Resolved]
  - Memory impairment [Fatal]
  - Malaise [Fatal]
  - Laboratory test abnormal [Not Recovered/Not Resolved]
  - Inappropriate schedule of product administration [Unknown]
  - Ill-defined disorder [Fatal]
  - Hypoaesthesia [Fatal]
  - Grip strength decreased [Fatal]
  - Frequent bowel movements [Not Recovered/Not Resolved]
  - Fibromyalgia [Fatal]
  - Feeling hot [Not Recovered/Not Resolved]
  - Dizziness [Not Recovered/Not Resolved]
  - Dislocation of vertebra [Fatal]
  - Depression [Fatal]
  - Delirium [Fatal]
  - Decreased appetite [Fatal]
  - Adverse event [Not Recovered/Not Resolved]
  - Adverse drug reaction [Not Recovered/Not Resolved]
  - Adjustment disorder with depressed mood [Not Recovered/Not Resolved]
  - Wheezing [Not Recovered/Not Resolved]
  - Vomiting [Not Recovered/Not Resolved]
  - Walking aid user [Not Recovered/Not Resolved]
  - Weight decreased [Fatal]
  - White blood cell count increased [Not Recovered/Not Resolved]
  - Pancreatitis [Not Recovered/Not Resolved]
  - Porphyria acute [Not Recovered/Not Resolved]
  - Rectal haemorrhage [Not Recovered/Not Resolved]
  - Ear pain [Not Recovered/Not Resolved]
  - Respiratory disorder [Not Recovered/Not Resolved]
  - Rheumatoid factor positive [Not Recovered/Not Resolved]
  - Prescribed overdose [Fatal]
  - Intentional product use issue [Not Recovered/Not Resolved]
  - Incorrect route of product administration [Not Recovered/Not Resolved]
  - Psoriatic arthropathy [Fatal]
  - Muscle spasms [Fatal]
  - Hospitalisation [Not Recovered/Not Resolved]
  - Confusional state [Fatal]
  - Exposure during pregnancy [Not Recovered/Not Resolved]
  - Asthma [Fatal]
  - Anxiety [Fatal]
  - Autoimmune disorder [Fatal]
  - Deep vein thrombosis postoperative [Fatal]
  - Gait inability [Fatal]
  - Lower limb fracture [Fatal]
  - Road traffic accident [Fatal]
  - Liver injury [Fatal]
  - Amnesia [Fatal]
  - Wound infection [Fatal]
  - Breast cancer stage II [Fatal]
  - Gait disturbance [Fatal]
  - Intentional product misuse [Fatal]
  - Sciatica [Fatal]
  - Loss of personal independence in daily activities [Fatal]
  - Lupus vulgaris [Fatal]
  - Migraine [Fatal]
